FAERS Safety Report 22907069 (Version 20)
Quarter: 2025Q2

REPORT INFORMATION
  Report Type: Spontaneous
  Country: CA (occurrence: CA)
  Receive Date: 20230905
  Receipt Date: 20250507
  Transmission Date: 20250717
  Serious: Yes (Death, Life-Threatening, Hospitalization, Disabling, Congenital Anomaly, Other)
  Sender: JOHNSON AND JOHNSON
  Company Number: CA-JNJFOC-20230869332

PATIENT
  Age: 43 Year
  Sex: Female
  Weight: 68 kg

DRUGS (1139)
  1. ACETAMINOPHEN [Suspect]
     Active Substance: ACETAMINOPHEN
     Indication: Rheumatoid arthritis
     Route: 065
  2. ACETAMINOPHEN [Suspect]
     Active Substance: ACETAMINOPHEN
     Route: 065
  3. TOPAMAX [Suspect]
     Active Substance: TOPIRAMATE
     Indication: Migraine
     Dosage: 3 MILLIGRAM
     Route: 065
  4. TOPAMAX [Suspect]
     Active Substance: TOPIRAMATE
     Indication: Product used for unknown indication
     Dosage: 1 DOSAGE FORM
  5. TOPAMAX [Suspect]
     Active Substance: TOPIRAMATE
     Indication: Product used for unknown indication
     Dosage: 25 MILLIGRAM
  6. TOPAMAX [Suspect]
     Active Substance: TOPIRAMATE
     Indication: Rheumatoid arthritis
     Dosage: 25 MILLIGRAM
  7. TOPAMAX [Suspect]
     Active Substance: TOPIRAMATE
     Dosage: 1 DOSAGE FORM
  8. TOPAMAX [Suspect]
     Active Substance: TOPIRAMATE
     Dosage: 3 MILLIGRAM
     Route: 065
  9. TOPAMAX [Suspect]
     Active Substance: TOPIRAMATE
     Dosage: 1 DOSAGE FORM
  10. TOPAMAX [Suspect]
     Active Substance: TOPIRAMATE
     Dosage: 25 MILLIGRAM
  11. TOPAMAX [Suspect]
     Active Substance: TOPIRAMATE
     Dosage: 25 MILLIGRAM
  12. TOPAMAX [Suspect]
     Active Substance: TOPIRAMATE
     Dosage: 1 DOSAGE FORM
  13. TOPAMAX [Suspect]
     Active Substance: TOPIRAMATE
     Route: 065
  14. TOPAMAX [Suspect]
     Active Substance: TOPIRAMATE
     Route: 048
  15. TOPAMAX [Suspect]
     Active Substance: TOPIRAMATE
     Route: 048
  16. TOPAMAX [Suspect]
     Active Substance: TOPIRAMATE
     Route: 048
  17. TOPAMAX [Suspect]
     Active Substance: TOPIRAMATE
     Route: 048
  18. TOPAMAX [Suspect]
     Active Substance: TOPIRAMATE
     Route: 065
  19. TOPAMAX [Suspect]
     Active Substance: TOPIRAMATE
     Route: 065
  20. STELARA [Suspect]
     Active Substance: USTEKINUMAB
     Indication: Product used for unknown indication
  21. STELARA [Suspect]
     Active Substance: USTEKINUMAB
     Indication: Rheumatoid arthritis
  22. STELARA [Suspect]
     Active Substance: USTEKINUMAB
     Indication: Psoriatic arthropathy
  23. STELARA [Suspect]
     Active Substance: USTEKINUMAB
     Indication: Psoriasis
  24. STELARA [Suspect]
     Active Substance: USTEKINUMAB
  25. STELARA [Suspect]
     Active Substance: USTEKINUMAB
  26. STELARA [Suspect]
     Active Substance: USTEKINUMAB
     Route: 058
  27. STELARA [Suspect]
     Active Substance: USTEKINUMAB
     Route: 058
  28. STELARA [Suspect]
     Active Substance: USTEKINUMAB
     Route: 042
  29. STELARA [Suspect]
     Active Substance: USTEKINUMAB
     Route: 058
  30. STELARA [Suspect]
     Active Substance: USTEKINUMAB
     Route: 058
  31. STELARA [Suspect]
     Active Substance: USTEKINUMAB
     Route: 058
  32. STELARA [Suspect]
     Active Substance: USTEKINUMAB
     Route: 058
  33. REMICADE [Suspect]
     Active Substance: INFLIXIMAB
     Indication: Rheumatoid arthritis
     Route: 041
  34. REMICADE [Suspect]
     Active Substance: INFLIXIMAB
     Indication: Psoriatic arthropathy
  35. REMICADE [Suspect]
     Active Substance: INFLIXIMAB
  36. REMICADE [Suspect]
     Active Substance: INFLIXIMAB
     Route: 041
  37. REMICADE [Suspect]
     Active Substance: INFLIXIMAB
  38. REMICADE [Suspect]
     Active Substance: INFLIXIMAB
  39. REMICADE [Suspect]
     Active Substance: INFLIXIMAB
     Route: 041
  40. REMICADE [Suspect]
     Active Substance: INFLIXIMAB
     Route: 041
  41. REMICADE [Suspect]
     Active Substance: INFLIXIMAB
     Route: 041
  42. REMICADE [Suspect]
     Active Substance: INFLIXIMAB
     Route: 048
  43. REMICADE [Suspect]
     Active Substance: INFLIXIMAB
     Route: 041
  44. REMICADE [Suspect]
     Active Substance: INFLIXIMAB
     Route: 042
  45. REMICADE [Suspect]
     Active Substance: INFLIXIMAB
     Route: 042
  46. SIMPONI [Suspect]
     Active Substance: GOLIMUMAB
     Indication: Rheumatoid arthritis
  47. SIMPONI [Suspect]
     Active Substance: GOLIMUMAB
     Indication: Product used for unknown indication
  48. SIMPONI [Suspect]
     Active Substance: GOLIMUMAB
     Indication: Prostatic specific antigen
     Route: 065
  49. SIMPONI [Suspect]
     Active Substance: GOLIMUMAB
  50. SIMPONI [Suspect]
     Active Substance: GOLIMUMAB
     Route: 065
  51. SIMPONI [Suspect]
     Active Substance: GOLIMUMAB
  52. SIMPONI [Suspect]
     Active Substance: GOLIMUMAB
  53. SIMPONI [Suspect]
     Active Substance: GOLIMUMAB
  54. SIMPONI [Suspect]
     Active Substance: GOLIMUMAB
     Route: 065
  55. SIMPONI [Suspect]
     Active Substance: GOLIMUMAB
  56. SIMPONI [Suspect]
     Active Substance: GOLIMUMAB
     Route: 065
  57. SIMPONI [Suspect]
     Active Substance: GOLIMUMAB
  58. SIMPONI [Suspect]
     Active Substance: GOLIMUMAB
     Route: 058
  59. SIMPONI [Suspect]
     Active Substance: GOLIMUMAB
     Route: 058
  60. SIMPONI [Suspect]
     Active Substance: GOLIMUMAB
     Route: 065
  61. SIMPONI [Suspect]
     Active Substance: GOLIMUMAB
     Route: 042
  62. SIMPONI [Suspect]
     Active Substance: GOLIMUMAB
     Route: 065
  63. SIMPONI [Suspect]
     Active Substance: GOLIMUMAB
     Route: 058
  64. SIMPONI [Suspect]
     Active Substance: GOLIMUMAB
     Route: 058
  65. SIMPONI [Suspect]
     Active Substance: GOLIMUMAB
     Route: 058
  66. SIMPONI [Suspect]
     Active Substance: GOLIMUMAB
  67. CETIRIZINE HYDROCHLORIDE\PSEUDOEPHEDRINE HYDROCHLORIDE [Suspect]
     Active Substance: CETIRIZINE HYDROCHLORIDE\PSEUDOEPHEDRINE HYDROCHLORIDE
     Indication: Product used for unknown indication
     Route: 065
  68. CETIRIZINE HYDROCHLORIDE\PSEUDOEPHEDRINE HYDROCHLORIDE [Suspect]
     Active Substance: CETIRIZINE HYDROCHLORIDE\PSEUDOEPHEDRINE HYDROCHLORIDE
     Indication: Rheumatoid arthritis
     Route: 065
  69. CETIRIZINE HYDROCHLORIDE\PSEUDOEPHEDRINE HYDROCHLORIDE [Suspect]
     Active Substance: CETIRIZINE HYDROCHLORIDE\PSEUDOEPHEDRINE HYDROCHLORIDE
  70. CETIRIZINE HYDROCHLORIDE\PSEUDOEPHEDRINE HYDROCHLORIDE [Suspect]
     Active Substance: CETIRIZINE HYDROCHLORIDE\PSEUDOEPHEDRINE HYDROCHLORIDE
     Route: 065
  71. CETIRIZINE HYDROCHLORIDE\PSEUDOEPHEDRINE HYDROCHLORIDE [Suspect]
     Active Substance: CETIRIZINE HYDROCHLORIDE\PSEUDOEPHEDRINE HYDROCHLORIDE
     Route: 065
  72. CETIRIZINE HYDROCHLORIDE\PSEUDOEPHEDRINE HYDROCHLORIDE [Suspect]
     Active Substance: CETIRIZINE HYDROCHLORIDE\PSEUDOEPHEDRINE HYDROCHLORIDE
  73. CETIRIZINE HYDROCHLORIDE\PSEUDOEPHEDRINE HYDROCHLORIDE [Suspect]
     Active Substance: CETIRIZINE HYDROCHLORIDE\PSEUDOEPHEDRINE HYDROCHLORIDE
     Route: 065
  74. CETIRIZINE HYDROCHLORIDE\PSEUDOEPHEDRINE HYDROCHLORIDE [Suspect]
     Active Substance: CETIRIZINE HYDROCHLORIDE\PSEUDOEPHEDRINE HYDROCHLORIDE
     Route: 065
  75. CETIRIZINE HYDROCHLORIDE\PSEUDOEPHEDRINE HYDROCHLORIDE [Suspect]
     Active Substance: CETIRIZINE HYDROCHLORIDE\PSEUDOEPHEDRINE HYDROCHLORIDE
     Route: 042
  76. CETIRIZINE HYDROCHLORIDE [Suspect]
     Active Substance: CETIRIZINE HYDROCHLORIDE
     Indication: Rheumatoid arthritis
     Route: 065
  77. CETIRIZINE HYDROCHLORIDE [Suspect]
     Active Substance: CETIRIZINE HYDROCHLORIDE
     Indication: Off label use
  78. CETIRIZINE HYDROCHLORIDE [Suspect]
     Active Substance: CETIRIZINE HYDROCHLORIDE
     Route: 065
  79. CETIRIZINE HYDROCHLORIDE [Suspect]
     Active Substance: CETIRIZINE HYDROCHLORIDE
     Dosage: 10 MILLIGRAM, ONCE A DAY
  80. CETIRIZINE HYDROCHLORIDE [Suspect]
     Active Substance: CETIRIZINE HYDROCHLORIDE
     Route: 065
  81. CETIRIZINE HYDROCHLORIDE [Suspect]
     Active Substance: CETIRIZINE HYDROCHLORIDE
     Route: 065
  82. CETIRIZINE HYDROCHLORIDE [Suspect]
     Active Substance: CETIRIZINE HYDROCHLORIDE
     Route: 065
  83. CETIRIZINE HYDROCHLORIDE [Suspect]
     Active Substance: CETIRIZINE HYDROCHLORIDE
     Route: 065
  84. CETIRIZINE HYDROCHLORIDE [Suspect]
     Active Substance: CETIRIZINE HYDROCHLORIDE
  85. CETIRIZINE HYDROCHLORIDE [Suspect]
     Active Substance: CETIRIZINE HYDROCHLORIDE
     Route: 065
  86. CETIRIZINE HYDROCHLORIDE [Suspect]
     Active Substance: CETIRIZINE HYDROCHLORIDE
  87. CETIRIZINE HYDROCHLORIDE [Suspect]
     Active Substance: CETIRIZINE HYDROCHLORIDE
     Route: 065
  88. CETIRIZINE HYDROCHLORIDE [Suspect]
     Active Substance: CETIRIZINE HYDROCHLORIDE
     Dosage: 10 MILLIGRAM, ONCE A DAY
  89. CETIRIZINE HYDROCHLORIDE [Suspect]
     Active Substance: CETIRIZINE HYDROCHLORIDE
     Route: 065
  90. CETIRIZINE HYDROCHLORIDE [Suspect]
     Active Substance: CETIRIZINE HYDROCHLORIDE
     Route: 065
  91. CETIRIZINE HYDROCHLORIDE [Suspect]
     Active Substance: CETIRIZINE HYDROCHLORIDE
     Route: 065
  92. CETIRIZINE HYDROCHLORIDE [Suspect]
     Active Substance: CETIRIZINE HYDROCHLORIDE
     Route: 065
  93. CETIRIZINE HYDROCHLORIDE [Suspect]
     Active Substance: CETIRIZINE HYDROCHLORIDE
  94. CETIRIZINE HYDROCHLORIDE [Suspect]
     Active Substance: CETIRIZINE HYDROCHLORIDE
     Route: 065
  95. CETIRIZINE HYDROCHLORIDE [Suspect]
     Active Substance: CETIRIZINE HYDROCHLORIDE
     Route: 048
  96. CETIRIZINE HYDROCHLORIDE [Suspect]
     Active Substance: CETIRIZINE HYDROCHLORIDE
     Route: 065
  97. CETIRIZINE HYDROCHLORIDE [Suspect]
     Active Substance: CETIRIZINE HYDROCHLORIDE
     Route: 048
  98. CETIRIZINE HYDROCHLORIDE [Suspect]
     Active Substance: CETIRIZINE HYDROCHLORIDE
     Route: 065
  99. CETIRIZINE HYDROCHLORIDE [Suspect]
     Active Substance: CETIRIZINE HYDROCHLORIDE
     Route: 065
  100. CETIRIZINE HYDROCHLORIDE [Suspect]
     Active Substance: CETIRIZINE HYDROCHLORIDE
     Route: 065
  101. CETIRIZINE HYDROCHLORIDE [Suspect]
     Active Substance: CETIRIZINE HYDROCHLORIDE
     Route: 065
  102. CETIRIZINE HYDROCHLORIDE [Suspect]
     Active Substance: CETIRIZINE HYDROCHLORIDE
     Route: 049
  103. CETIRIZINE HYDROCHLORIDE [Suspect]
     Active Substance: CETIRIZINE HYDROCHLORIDE
     Route: 048
  104. CETIRIZINE HYDROCHLORIDE [Suspect]
     Active Substance: CETIRIZINE HYDROCHLORIDE
     Route: 048
  105. CETIRIZINE HYDROCHLORIDE [Suspect]
     Active Substance: CETIRIZINE HYDROCHLORIDE
     Route: 065
  106. HYDROCORTISONE [Suspect]
     Active Substance: HYDROCORTISONE
     Indication: Rheumatoid arthritis
  107. HYDROCORTISONE [Suspect]
     Active Substance: HYDROCORTISONE
     Indication: Product used for unknown indication
  108. HYDROCORTISONE [Suspect]
     Active Substance: HYDROCORTISONE
     Route: 061
  109. HYDROCORTISONE [Suspect]
     Active Substance: HYDROCORTISONE
  110. HYDROCORTISONE [Suspect]
     Active Substance: HYDROCORTISONE
  111. HYDROCORTISONE [Suspect]
     Active Substance: HYDROCORTISONE
     Route: 061
  112. HYDROCORTISONE [Suspect]
     Active Substance: HYDROCORTISONE
     Route: 003
  113. HYDROCORTISONE [Suspect]
     Active Substance: HYDROCORTISONE
     Route: 058
  114. HYDROCORTISONE [Suspect]
     Active Substance: HYDROCORTISONE
     Route: 061
  115. ALENDRONATE SODIUM [Suspect]
     Active Substance: ALENDRONATE SODIUM
     Indication: Rheumatoid arthritis
  116. ALENDRONATE SODIUM [Suspect]
     Active Substance: ALENDRONATE SODIUM
     Indication: Product used for unknown indication
     Route: 065
  117. ALENDRONATE SODIUM [Suspect]
     Active Substance: ALENDRONATE SODIUM
     Route: 065
  118. ALENDRONATE SODIUM [Suspect]
     Active Substance: ALENDRONATE SODIUM
  119. ALENDRONATE SODIUM [Suspect]
     Active Substance: ALENDRONATE SODIUM
  120. ALENDRONATE SODIUM [Suspect]
     Active Substance: ALENDRONATE SODIUM
     Route: 065
  121. ALENDRONATE SODIUM [Suspect]
     Active Substance: ALENDRONATE SODIUM
     Route: 065
  122. ALENDRONATE SODIUM [Suspect]
     Active Substance: ALENDRONATE SODIUM
  123. ALENDRONATE SODIUM [Suspect]
     Active Substance: ALENDRONATE SODIUM
     Route: 048
  124. ALENDRONATE SODIUM [Suspect]
     Active Substance: ALENDRONATE SODIUM
     Route: 065
  125. ALENDRONATE SODIUM [Suspect]
     Active Substance: ALENDRONATE SODIUM
     Route: 065
  126. ALENDRONATE SODIUM [Suspect]
     Active Substance: ALENDRONATE SODIUM
     Route: 016
  127. ALENDRONIC ACID [Suspect]
     Active Substance: ALENDRONIC ACID
     Indication: Rheumatoid arthritis
  128. ALENDRONIC ACID [Suspect]
     Active Substance: ALENDRONIC ACID
  129. ALENDRONIC ACID [Suspect]
     Active Substance: ALENDRONIC ACID
  130. ALENDRONIC ACID [Suspect]
     Active Substance: ALENDRONIC ACID
  131. ALENDRONIC ACID [Suspect]
     Active Substance: ALENDRONIC ACID
  132. ALENDRONIC ACID [Suspect]
     Active Substance: ALENDRONIC ACID
  133. ALENDRONIC ACID [Suspect]
     Active Substance: ALENDRONIC ACID
     Route: 048
  134. ALENDRONIC ACID [Suspect]
     Active Substance: ALENDRONIC ACID
     Route: 016
  135. ALENDRONIC ACID [Suspect]
     Active Substance: ALENDRONIC ACID
     Route: 016
  136. ARAVA [Suspect]
     Active Substance: LEFLUNOMIDE
     Indication: Rheumatoid arthritis
  137. ARAVA [Suspect]
     Active Substance: LEFLUNOMIDE
     Indication: Product used for unknown indication
  138. ARAVA [Suspect]
     Active Substance: LEFLUNOMIDE
  139. ARAVA [Suspect]
     Active Substance: LEFLUNOMIDE
  140. ARAVA [Suspect]
     Active Substance: LEFLUNOMIDE
  141. ARAVA [Suspect]
     Active Substance: LEFLUNOMIDE
  142. ARAVA [Suspect]
     Active Substance: LEFLUNOMIDE
     Route: 048
  143. ARAVA [Suspect]
     Active Substance: LEFLUNOMIDE
     Route: 048
  144. ARAVA [Suspect]
     Active Substance: LEFLUNOMIDE
     Route: 005
  145. CANDESARTAN [Suspect]
     Active Substance: CANDESARTAN
     Indication: Migraine
  146. CANDESARTAN [Suspect]
     Active Substance: CANDESARTAN
  147. CANDESARTAN [Suspect]
     Active Substance: CANDESARTAN
     Route: 048
  148. CORTISONE ACETATE [Suspect]
     Active Substance: CORTISONE ACETATE
     Indication: Rheumatoid arthritis
     Route: 061
  149. CORTISONE ACETATE [Suspect]
     Active Substance: CORTISONE ACETATE
     Indication: Product used for unknown indication
     Route: 065
  150. CORTISONE ACETATE [Suspect]
     Active Substance: CORTISONE ACETATE
  151. CORTISONE ACETATE [Suspect]
     Active Substance: CORTISONE ACETATE
     Route: 065
  152. CORTISONE ACETATE [Suspect]
     Active Substance: CORTISONE ACETATE
  153. CORTISONE ACETATE [Suspect]
     Active Substance: CORTISONE ACETATE
     Route: 065
  154. CORTISONE ACETATE [Suspect]
     Active Substance: CORTISONE ACETATE
  155. CORTISONE ACETATE [Suspect]
     Active Substance: CORTISONE ACETATE
     Route: 061
  156. CORTISONE ACETATE [Suspect]
     Active Substance: CORTISONE ACETATE
     Route: 065
  157. CORTISONE ACETATE [Suspect]
     Active Substance: CORTISONE ACETATE
  158. CORTISONE ACETATE [Suspect]
     Active Substance: CORTISONE ACETATE
     Route: 065
  159. CORTISONE ACETATE [Suspect]
     Active Substance: CORTISONE ACETATE
  160. CORTISONE ACETATE [Suspect]
     Active Substance: CORTISONE ACETATE
     Route: 065
  161. CORTISONE ACETATE [Suspect]
     Active Substance: CORTISONE ACETATE
  162. CORTISONE ACETATE [Suspect]
     Active Substance: CORTISONE ACETATE
     Route: 061
  163. CORTISONE ACETATE [Suspect]
     Active Substance: CORTISONE ACETATE
     Route: 065
  164. CORTISONE ACETATE [Suspect]
     Active Substance: CORTISONE ACETATE
     Route: 048
  165. CORTISONE ACETATE [Suspect]
     Active Substance: CORTISONE ACETATE
     Route: 065
  166. CORTISONE ACETATE [Suspect]
     Active Substance: CORTISONE ACETATE
     Route: 003
  167. CORTISONE ACETATE [Suspect]
     Active Substance: CORTISONE ACETATE
     Route: 065
  168. CORTISONE ACETATE [Suspect]
     Active Substance: CORTISONE ACETATE
     Route: 048
  169. DESOXIMETASONE [Suspect]
     Active Substance: DESOXIMETASONE
     Indication: Rheumatoid arthritis
  170. DESOXIMETASONE [Suspect]
     Active Substance: DESOXIMETASONE
     Indication: Product used for unknown indication
  171. DESOXIMETASONE [Suspect]
     Active Substance: DESOXIMETASONE
  172. DESOXIMETASONE [Suspect]
     Active Substance: DESOXIMETASONE
  173. DESOXIMETASONE [Suspect]
     Active Substance: DESOXIMETASONE
  174. DESOXIMETASONE [Suspect]
     Active Substance: DESOXIMETASONE
     Route: 065
  175. DESOXIMETASONE [Suspect]
     Active Substance: DESOXIMETASONE
  176. DESOXIMETASONE [Suspect]
     Active Substance: DESOXIMETASONE
  177. DESOXIMETASONE [Suspect]
     Active Substance: DESOXIMETASONE
  178. DESOXIMETASONE [Suspect]
     Active Substance: DESOXIMETASONE
     Route: 065
  179. DESOXIMETASONE [Suspect]
     Active Substance: DESOXIMETASONE
  180. DESOXIMETASONE [Suspect]
     Active Substance: DESOXIMETASONE
  181. DESOXIMETASONE [Suspect]
     Active Substance: DESOXIMETASONE
  182. DESOXIMETASONE [Suspect]
     Active Substance: DESOXIMETASONE
  183. DESOXIMETASONE [Suspect]
     Active Substance: DESOXIMETASONE
  184. DESOXIMETASONE [Suspect]
     Active Substance: DESOXIMETASONE
     Route: 065
  185. DESOXIMETASONE [Suspect]
     Active Substance: DESOXIMETASONE
  186. DESOXIMETASONE [Suspect]
     Active Substance: DESOXIMETASONE
  187. DESOXIMETASONE [Suspect]
     Active Substance: DESOXIMETASONE
  188. DESOXIMETASONE [Suspect]
     Active Substance: DESOXIMETASONE
     Route: 065
  189. DESOXIMETASONE [Suspect]
     Active Substance: DESOXIMETASONE
     Route: 058
  190. DESOXIMETASONE [Suspect]
     Active Substance: DESOXIMETASONE
     Route: 048
  191. DESOXIMETASONE [Suspect]
     Active Substance: DESOXIMETASONE
     Route: 048
  192. DESOXIMETASONE [Suspect]
     Active Substance: DESOXIMETASONE
     Route: 048
  193. DESOXIMETASONE [Suspect]
     Active Substance: DESOXIMETASONE
     Route: 058
  194. DESOXIMETASONE [Suspect]
     Active Substance: DESOXIMETASONE
     Route: 065
  195. DESOXIMETASONE [Suspect]
     Active Substance: DESOXIMETASONE
     Route: 003
  196. DESOXIMETASONE [Suspect]
     Active Substance: DESOXIMETASONE
     Route: 003
  197. DESOXIMETASONE [Suspect]
     Active Substance: DESOXIMETASONE
     Route: 048
  198. DESOXIMETASONE [Suspect]
     Active Substance: DESOXIMETASONE
     Route: 065
  199. DICLOFENAC DIETHYLAMINE [Suspect]
     Active Substance: DICLOFENAC DIETHYLAMINE
     Indication: Product used for unknown indication
     Route: 065
  200. DICLOFENAC DIETHYLAMINE [Suspect]
     Active Substance: DICLOFENAC DIETHYLAMINE
     Route: 065
  201. DICLOFENAC DIETHYLAMINE [Suspect]
     Active Substance: DICLOFENAC DIETHYLAMINE
     Route: 065
  202. HYDROCORTISONE BUTYRATE [Suspect]
     Active Substance: HYDROCORTISONE BUTYRATE
     Indication: Rheumatoid arthritis
     Route: 065
  203. HYDROCORTISONE BUTYRATE [Suspect]
     Active Substance: HYDROCORTISONE BUTYRATE
     Route: 065
  204. HYDROCORTISONE BUTYRATE [Suspect]
     Active Substance: HYDROCORTISONE BUTYRATE
     Route: 065
  205. HYDROXYCHLOROQUINE [Suspect]
     Active Substance: HYDROXYCHLOROQUINE
     Indication: Rheumatoid arthritis
     Dosage: 400 MILLIGRAM
  206. HYDROXYCHLOROQUINE [Suspect]
     Active Substance: HYDROXYCHLOROQUINE
     Indication: Product used for unknown indication
     Dosage: 1 DOSAGE FORM
  207. HYDROXYCHLOROQUINE [Suspect]
     Active Substance: HYDROXYCHLOROQUINE
     Dosage: 40 MILLIGRAM
  208. HYDROXYCHLOROQUINE [Suspect]
     Active Substance: HYDROXYCHLOROQUINE
     Dosage: 1 DOSAGE FORM
  209. HYDROXYCHLOROQUINE [Suspect]
     Active Substance: HYDROXYCHLOROQUINE
  210. HYDROXYCHLOROQUINE [Suspect]
     Active Substance: HYDROXYCHLOROQUINE
  211. HYDROXYCHLOROQUINE [Suspect]
     Active Substance: HYDROXYCHLOROQUINE
  212. HYDROXYCHLOROQUINE [Suspect]
     Active Substance: HYDROXYCHLOROQUINE
  213. HYDROXYCHLOROQUINE [Suspect]
     Active Substance: HYDROXYCHLOROQUINE
  214. HYDROXYCHLOROQUINE [Suspect]
     Active Substance: HYDROXYCHLOROQUINE
     Route: 065
  215. HYDROXYCHLOROQUINE [Suspect]
     Active Substance: HYDROXYCHLOROQUINE
     Route: 065
  216. HYDROXYCHLOROQUINE [Suspect]
     Active Substance: HYDROXYCHLOROQUINE
  217. HYDROXYCHLOROQUINE [Suspect]
     Active Substance: HYDROXYCHLOROQUINE
     Dosage: 400 MILLIGRAM
  218. HYDROXYCHLOROQUINE [Suspect]
     Active Substance: HYDROXYCHLOROQUINE
  219. HYDROXYCHLOROQUINE [Suspect]
     Active Substance: HYDROXYCHLOROQUINE
     Dosage: 400 MILLIGRAM
  220. HYDROXYCHLOROQUINE [Suspect]
     Active Substance: HYDROXYCHLOROQUINE
     Dosage: 400 MILLIGRAM
  221. HYDROXYCHLOROQUINE [Suspect]
     Active Substance: HYDROXYCHLOROQUINE
     Dosage: 1 DOSAGE FORM
  222. HYDROXYCHLOROQUINE [Suspect]
     Active Substance: HYDROXYCHLOROQUINE
     Dosage: 40 MILLIGRAM
  223. HYDROXYCHLOROQUINE [Suspect]
     Active Substance: HYDROXYCHLOROQUINE
     Dosage: 1 DOSAGE FORM
  224. HYDROXYCHLOROQUINE [Suspect]
     Active Substance: HYDROXYCHLOROQUINE
  225. HYDROXYCHLOROQUINE [Suspect]
     Active Substance: HYDROXYCHLOROQUINE
  226. HYDROXYCHLOROQUINE [Suspect]
     Active Substance: HYDROXYCHLOROQUINE
  227. HYDROXYCHLOROQUINE [Suspect]
     Active Substance: HYDROXYCHLOROQUINE
  228. HYDROXYCHLOROQUINE [Suspect]
     Active Substance: HYDROXYCHLOROQUINE
  229. HYDROXYCHLOROQUINE [Suspect]
     Active Substance: HYDROXYCHLOROQUINE
     Route: 065
  230. HYDROXYCHLOROQUINE [Suspect]
     Active Substance: HYDROXYCHLOROQUINE
     Route: 065
  231. HYDROXYCHLOROQUINE [Suspect]
     Active Substance: HYDROXYCHLOROQUINE
  232. HYDROXYCHLOROQUINE [Suspect]
     Active Substance: HYDROXYCHLOROQUINE
     Dosage: 400 MILLIGRAM
  233. HYDROXYCHLOROQUINE [Suspect]
     Active Substance: HYDROXYCHLOROQUINE
  234. HYDROXYCHLOROQUINE [Suspect]
     Active Substance: HYDROXYCHLOROQUINE
     Dosage: 400 MILLIGRAM
  235. HYDROXYCHLOROQUINE [Suspect]
     Active Substance: HYDROXYCHLOROQUINE
     Route: 048
  236. HYDROXYCHLOROQUINE [Suspect]
     Active Substance: HYDROXYCHLOROQUINE
     Route: 048
  237. HYDROXYCHLOROQUINE [Suspect]
     Active Substance: HYDROXYCHLOROQUINE
     Route: 048
  238. HYDROXYCHLOROQUINE [Suspect]
     Active Substance: HYDROXYCHLOROQUINE
     Route: 058
  239. HYDROXYCHLOROQUINE [Suspect]
     Active Substance: HYDROXYCHLOROQUINE
     Route: 048
  240. HYDROXYCHLOROQUINE [Suspect]
     Active Substance: HYDROXYCHLOROQUINE
     Route: 048
  241. HYDROXYCHLOROQUINE [Suspect]
     Active Substance: HYDROXYCHLOROQUINE
     Route: 048
  242. HYDROXYCHLOROQUINE [Suspect]
     Active Substance: HYDROXYCHLOROQUINE
     Route: 058
  243. HYDROXYCHLOROQUINE [Suspect]
     Active Substance: HYDROXYCHLOROQUINE
     Route: 048
  244. HYDROXYCHLOROQUINE [Suspect]
     Active Substance: HYDROXYCHLOROQUINE
     Route: 065
  245. HYDROXYCHLOROQUINE [Suspect]
     Active Substance: HYDROXYCHLOROQUINE
     Route: 065
  246. HYDROXYCHLOROQUINE [Suspect]
     Active Substance: HYDROXYCHLOROQUINE
     Route: 048
  247. HYDROXYCHLOROQUINE [Suspect]
     Active Substance: HYDROXYCHLOROQUINE
     Route: 048
  248. HYDROXYCHLOROQUINE [Suspect]
     Active Substance: HYDROXYCHLOROQUINE
     Route: 048
  249. HYDROXYCHLOROQUINE [Suspect]
     Active Substance: HYDROXYCHLOROQUINE
     Route: 058
  250. KEVZARA [Suspect]
     Active Substance: SARILUMAB
     Indication: Rheumatoid arthritis
     Route: 065
  251. KEVZARA [Suspect]
     Active Substance: SARILUMAB
     Route: 065
  252. KEVZARA [Suspect]
     Active Substance: SARILUMAB
     Route: 065
  253. LEFLUNOMIDE [Suspect]
     Active Substance: LEFLUNOMIDE
     Indication: Rheumatoid arthritis
     Dosage: 20 MILLIGRAM
     Route: 065
  254. LEFLUNOMIDE [Suspect]
     Active Substance: LEFLUNOMIDE
     Indication: Product used for unknown indication
     Dosage: 10 MILLIGRAM
     Route: 065
  255. LEFLUNOMIDE [Suspect]
     Active Substance: LEFLUNOMIDE
     Dosage: 1 DOSAGE FORM
  256. LEFLUNOMIDE [Suspect]
     Active Substance: LEFLUNOMIDE
  257. LEFLUNOMIDE [Suspect]
     Active Substance: LEFLUNOMIDE
     Route: 065
  258. LEFLUNOMIDE [Suspect]
     Active Substance: LEFLUNOMIDE
     Route: 065
  259. LEFLUNOMIDE [Suspect]
     Active Substance: LEFLUNOMIDE
     Dosage: 20 MILLIGRAM
     Route: 065
  260. LEFLUNOMIDE [Suspect]
     Active Substance: LEFLUNOMIDE
     Dosage: 10 MILLIGRAM
     Route: 065
  261. LEFLUNOMIDE [Suspect]
     Active Substance: LEFLUNOMIDE
     Dosage: 1 DOSAGE FORM
  262. LEFLUNOMIDE [Suspect]
     Active Substance: LEFLUNOMIDE
  263. LEFLUNOMIDE [Suspect]
     Active Substance: LEFLUNOMIDE
     Route: 065
  264. LEFLUNOMIDE [Suspect]
     Active Substance: LEFLUNOMIDE
     Route: 065
  265. LEFLUNOMIDE [Suspect]
     Active Substance: LEFLUNOMIDE
     Route: 065
  266. LEFLUNOMIDE [Suspect]
     Active Substance: LEFLUNOMIDE
     Route: 065
  267. LEFLUNOMIDE [Suspect]
     Active Substance: LEFLUNOMIDE
     Route: 048
  268. LEFLUNOMIDE [Suspect]
     Active Substance: LEFLUNOMIDE
     Route: 048
  269. LEFLUNOMIDE [Suspect]
     Active Substance: LEFLUNOMIDE
     Route: 065
  270. LEFLUNOMIDE [Suspect]
     Active Substance: LEFLUNOMIDE
     Route: 065
  271. METHOTREXATE [Suspect]
     Active Substance: METHOTREXATE
     Indication: Rheumatoid arthritis
     Dosage: 20 MILLIGRAM
  272. METHOTREXATE [Suspect]
     Active Substance: METHOTREXATE
     Indication: Product used for unknown indication
     Dosage: 25 MILLIGRAM
  273. METHOTREXATE [Suspect]
     Active Substance: METHOTREXATE
     Dosage: 25 MILLIGRAM
  274. METHOTREXATE [Suspect]
     Active Substance: METHOTREXATE
  275. METHOTREXATE [Suspect]
     Active Substance: METHOTREXATE
  276. METHOTREXATE [Suspect]
     Active Substance: METHOTREXATE
  277. METHOTREXATE [Suspect]
     Active Substance: METHOTREXATE
  278. METHOTREXATE [Suspect]
     Active Substance: METHOTREXATE
  279. METHOTREXATE [Suspect]
     Active Substance: METHOTREXATE
  280. METHOTREXATE [Suspect]
     Active Substance: METHOTREXATE
  281. METHOTREXATE [Suspect]
     Active Substance: METHOTREXATE
  282. METHOTREXATE [Suspect]
     Active Substance: METHOTREXATE
     Dosage: 15 MILLIGRAM
  283. METHOTREXATE [Suspect]
     Active Substance: METHOTREXATE
  284. METHOTREXATE [Suspect]
     Active Substance: METHOTREXATE
     Dosage: 1 GRAM
  285. METHOTREXATE [Suspect]
     Active Substance: METHOTREXATE
     Dosage: 25 MILLIGRAM
  286. METHOTREXATE [Suspect]
     Active Substance: METHOTREXATE
     Route: 065
  287. METHOTREXATE [Suspect]
     Active Substance: METHOTREXATE
     Dosage: 20 MILLIGRAM
  288. METHOTREXATE [Suspect]
     Active Substance: METHOTREXATE
     Dosage: 25 MILLIGRAM
  289. METHOTREXATE [Suspect]
     Active Substance: METHOTREXATE
     Dosage: 25 MILLIGRAM
  290. METHOTREXATE [Suspect]
     Active Substance: METHOTREXATE
  291. METHOTREXATE [Suspect]
     Active Substance: METHOTREXATE
  292. METHOTREXATE [Suspect]
     Active Substance: METHOTREXATE
  293. METHOTREXATE [Suspect]
     Active Substance: METHOTREXATE
  294. METHOTREXATE [Suspect]
     Active Substance: METHOTREXATE
  295. METHOTREXATE [Suspect]
     Active Substance: METHOTREXATE
  296. METHOTREXATE [Suspect]
     Active Substance: METHOTREXATE
  297. METHOTREXATE [Suspect]
     Active Substance: METHOTREXATE
  298. METHOTREXATE [Suspect]
     Active Substance: METHOTREXATE
     Dosage: 15 MILLIGRAM
  299. METHOTREXATE [Suspect]
     Active Substance: METHOTREXATE
  300. METHOTREXATE [Suspect]
     Active Substance: METHOTREXATE
     Dosage: 1 GRAM
  301. METHOTREXATE [Suspect]
     Active Substance: METHOTREXATE
     Dosage: 25 MILLIGRAM
  302. METHOTREXATE [Suspect]
     Active Substance: METHOTREXATE
     Route: 065
  303. METHOTREXATE [Suspect]
     Active Substance: METHOTREXATE
     Route: 048
  304. METHOTREXATE [Suspect]
     Active Substance: METHOTREXATE
     Route: 048
  305. METHOTREXATE [Suspect]
     Active Substance: METHOTREXATE
     Route: 013
  306. METHOTREXATE [Suspect]
     Active Substance: METHOTREXATE
     Route: 058
  307. METHOTREXATE [Suspect]
     Active Substance: METHOTREXATE
     Route: 048
  308. METHOTREXATE [Suspect]
     Active Substance: METHOTREXATE
     Route: 048
  309. METHOTREXATE [Suspect]
     Active Substance: METHOTREXATE
     Route: 058
  310. METHOTREXATE [Suspect]
     Active Substance: METHOTREXATE
     Route: 048
  311. METHOTREXATE [Suspect]
     Active Substance: METHOTREXATE
     Route: 016
  312. METHOTREXATE [Suspect]
     Active Substance: METHOTREXATE
     Route: 013
  313. METHOTREXATE [Suspect]
     Active Substance: METHOTREXATE
     Route: 048
  314. METHOTREXATE [Suspect]
     Active Substance: METHOTREXATE
     Route: 048
  315. METHOTREXATE [Suspect]
     Active Substance: METHOTREXATE
     Route: 048
  316. METHOTREXATE [Suspect]
     Active Substance: METHOTREXATE
     Route: 048
  317. METHOTREXATE [Suspect]
     Active Substance: METHOTREXATE
     Route: 048
  318. METHOTREXATE [Suspect]
     Active Substance: METHOTREXATE
     Route: 065
  319. METHYLPREDNISOLONE SODIUM SUCCINATE [Suspect]
     Active Substance: METHYLPREDNISOLONE SODIUM SUCCINATE
     Indication: Product used for unknown indication
     Route: 065
  320. METHYLPREDNISOLONE SODIUM SUCCINATE [Suspect]
     Active Substance: METHYLPREDNISOLONE SODIUM SUCCINATE
     Route: 065
  321. METHYLPREDNISOLONE SODIUM SUCCINATE [Suspect]
     Active Substance: METHYLPREDNISOLONE SODIUM SUCCINATE
     Route: 065
  322. NAPROXEN SODIUM [Suspect]
     Active Substance: NAPROXEN SODIUM
     Indication: Rheumatoid arthritis
     Route: 065
  323. NAPROXEN SODIUM [Suspect]
     Active Substance: NAPROXEN SODIUM
     Indication: Product used for unknown indication
     Dosage: 1000 MILLIGRAM
     Route: 065
  324. NAPROXEN SODIUM [Suspect]
     Active Substance: NAPROXEN SODIUM
     Route: 065
  325. NAPROXEN SODIUM [Suspect]
     Active Substance: NAPROXEN SODIUM
     Route: 065
  326. NAPROXEN SODIUM [Suspect]
     Active Substance: NAPROXEN SODIUM
     Dosage: 1000 MILLIGRAM
     Route: 065
  327. NAPROXEN SODIUM [Suspect]
     Active Substance: NAPROXEN SODIUM
     Route: 065
  328. NAPROXEN SODIUM [Suspect]
     Active Substance: NAPROXEN SODIUM
     Route: 065
  329. NAPROXEN SODIUM [Suspect]
     Active Substance: NAPROXEN SODIUM
     Route: 065
  330. NAPROXEN SODIUM [Suspect]
     Active Substance: NAPROXEN SODIUM
     Route: 065
  331. OXYCODONE [Suspect]
     Active Substance: OXYCODONE
     Indication: Product used for unknown indication
     Route: 065
  332. OXYCODONE [Suspect]
     Active Substance: OXYCODONE
     Route: 065
  333. OXYCODONE [Suspect]
     Active Substance: OXYCODONE
     Route: 065
  334. PREDNISONE [Suspect]
     Active Substance: PREDNISONE
     Indication: Rheumatoid arthritis
  335. PREDNISONE [Suspect]
     Active Substance: PREDNISONE
     Indication: Product used for unknown indication
  336. PREDNISONE [Suspect]
     Active Substance: PREDNISONE
     Route: 065
  337. PREDNISONE [Suspect]
     Active Substance: PREDNISONE
     Route: 065
  338. PREDNISONE [Suspect]
     Active Substance: PREDNISONE
  339. PREDNISONE [Suspect]
     Active Substance: PREDNISONE
  340. PREDNISONE [Suspect]
     Active Substance: PREDNISONE
  341. PREDNISONE [Suspect]
     Active Substance: PREDNISONE
  342. PREDNISONE [Suspect]
     Active Substance: PREDNISONE
     Route: 065
  343. PREDNISONE [Suspect]
     Active Substance: PREDNISONE
     Route: 065
  344. PREDNISONE [Suspect]
     Active Substance: PREDNISONE
  345. PREDNISONE [Suspect]
     Active Substance: PREDNISONE
  346. PREDNISONE [Suspect]
     Active Substance: PREDNISONE
     Route: 048
  347. PREDNISONE [Suspect]
     Active Substance: PREDNISONE
     Route: 048
  348. PREDNISONE [Suspect]
     Active Substance: PREDNISONE
     Route: 065
  349. PREDNISONE [Suspect]
     Active Substance: PREDNISONE
     Route: 065
  350. PREDNISONE [Suspect]
     Active Substance: PREDNISONE
     Route: 042
  351. PREDNISONE [Suspect]
     Active Substance: PREDNISONE
     Route: 048
  352. RAMIPRIL [Suspect]
     Active Substance: RAMIPRIL
     Indication: Rheumatoid arthritis
  353. RAMIPRIL [Suspect]
     Active Substance: RAMIPRIL
     Indication: Product used for unknown indication
  354. RAMIPRIL [Suspect]
     Active Substance: RAMIPRIL
  355. RAMIPRIL [Suspect]
     Active Substance: RAMIPRIL
  356. RAMIPRIL [Suspect]
     Active Substance: RAMIPRIL
     Route: 016
  357. RAMIPRIL [Suspect]
     Active Substance: RAMIPRIL
     Route: 042
  358. GOLD SODIUM THIOMALATE [Suspect]
     Active Substance: GOLD SODIUM THIOMALATE
     Indication: Product used for unknown indication
     Route: 065
  359. GOLD SODIUM THIOMALATE [Suspect]
     Active Substance: GOLD SODIUM THIOMALATE
     Route: 065
  360. GOLD SODIUM THIOMALATE [Suspect]
     Active Substance: GOLD SODIUM THIOMALATE
     Route: 065
  361. GOLD SODIUM THIOMALATE [Suspect]
     Active Substance: GOLD SODIUM THIOMALATE
     Route: 030
  362. GOLD SODIUM THIOMALATE [Suspect]
     Active Substance: GOLD SODIUM THIOMALATE
     Route: 065
  363. SULFASALAZINE [Suspect]
     Active Substance: SULFASALAZINE
     Indication: Rheumatoid arthritis
     Dosage: 300 MILLIGRAM
  364. SULFASALAZINE [Suspect]
     Active Substance: SULFASALAZINE
     Dosage: 2 GRAM
  365. SULFASALAZINE [Suspect]
     Active Substance: SULFASALAZINE
  366. SULFASALAZINE [Suspect]
     Active Substance: SULFASALAZINE
     Dosage: 1 GRAM
  367. SULFASALAZINE [Suspect]
     Active Substance: SULFASALAZINE
     Route: 065
  368. SULFASALAZINE [Suspect]
     Active Substance: SULFASALAZINE
  369. SULFASALAZINE [Suspect]
     Active Substance: SULFASALAZINE
  370. SULFASALAZINE [Suspect]
     Active Substance: SULFASALAZINE
  371. SULFASALAZINE [Suspect]
     Active Substance: SULFASALAZINE
     Dosage: 2000 MILLIGRAM
  372. SULFASALAZINE [Suspect]
     Active Substance: SULFASALAZINE
  373. SULFASALAZINE [Suspect]
     Active Substance: SULFASALAZINE
  374. SULFASALAZINE [Suspect]
     Active Substance: SULFASALAZINE
     Route: 065
  375. SULFASALAZINE [Suspect]
     Active Substance: SULFASALAZINE
     Dosage: 1000 MILLIGRAM
  376. SULFASALAZINE [Suspect]
     Active Substance: SULFASALAZINE
     Dosage: 1 GRAM
  377. SULFASALAZINE [Suspect]
     Active Substance: SULFASALAZINE
     Dosage: 1 DOSAGE FORM
  378. SULFASALAZINE [Suspect]
     Active Substance: SULFASALAZINE
  379. SULFASALAZINE [Suspect]
     Active Substance: SULFASALAZINE
     Dosage: 300 MILLIGRAM
  380. SULFASALAZINE [Suspect]
     Active Substance: SULFASALAZINE
     Dosage: 2 GRAM
  381. SULFASALAZINE [Suspect]
     Active Substance: SULFASALAZINE
  382. SULFASALAZINE [Suspect]
     Active Substance: SULFASALAZINE
     Dosage: 1 GRAM
  383. SULFASALAZINE [Suspect]
     Active Substance: SULFASALAZINE
     Route: 065
  384. SULFASALAZINE [Suspect]
     Active Substance: SULFASALAZINE
  385. SULFASALAZINE [Suspect]
     Active Substance: SULFASALAZINE
  386. SULFASALAZINE [Suspect]
     Active Substance: SULFASALAZINE
  387. SULFASALAZINE [Suspect]
     Active Substance: SULFASALAZINE
     Dosage: 2000 MILLIGRAM
  388. SULFASALAZINE [Suspect]
     Active Substance: SULFASALAZINE
  389. SULFASALAZINE [Suspect]
     Active Substance: SULFASALAZINE
  390. SULFASALAZINE [Suspect]
     Active Substance: SULFASALAZINE
     Route: 065
  391. SULFASALAZINE [Suspect]
     Active Substance: SULFASALAZINE
     Dosage: 1000 MILLIGRAM
  392. SULFASALAZINE [Suspect]
     Active Substance: SULFASALAZINE
     Dosage: 1 GRAM
  393. SULFASALAZINE [Suspect]
     Active Substance: SULFASALAZINE
     Dosage: 1 DOSAGE FORM
  394. SULFASALAZINE [Suspect]
     Active Substance: SULFASALAZINE
  395. SULFASALAZINE [Suspect]
     Active Substance: SULFASALAZINE
     Route: 048
  396. SULFASALAZINE [Suspect]
     Active Substance: SULFASALAZINE
     Route: 048
  397. SULFASALAZINE [Suspect]
     Active Substance: SULFASALAZINE
     Route: 048
  398. SULFASALAZINE [Suspect]
     Active Substance: SULFASALAZINE
     Route: 058
  399. SULFASALAZINE [Suspect]
     Active Substance: SULFASALAZINE
     Route: 065
  400. SULFASALAZINE [Suspect]
     Active Substance: SULFASALAZINE
     Route: 048
  401. SULFASALAZINE [Suspect]
     Active Substance: SULFASALAZINE
     Route: 048
  402. SULFASALAZINE [Suspect]
     Active Substance: SULFASALAZINE
     Route: 048
  403. SULFASALAZINE [Suspect]
     Active Substance: SULFASALAZINE
     Route: 048
  404. SULFASALAZINE [Suspect]
     Active Substance: SULFASALAZINE
     Route: 058
  405. SULFASALAZINE [Suspect]
     Active Substance: SULFASALAZINE
     Route: 058
  406. SULFASALAZINE [Suspect]
     Active Substance: SULFASALAZINE
     Route: 065
  407. SULFASALAZINE [Suspect]
     Active Substance: SULFASALAZINE
     Route: 048
  408. SULFASALAZINE [Suspect]
     Active Substance: SULFASALAZINE
     Route: 058
  409. SULFASALAZINE [Suspect]
     Active Substance: SULFASALAZINE
     Route: 048
  410. SULFASALAZINE [Suspect]
     Active Substance: SULFASALAZINE
     Route: 048
  411. TRAMADOL HYDROCHLORIDE [Suspect]
     Active Substance: TRAMADOL HYDROCHLORIDE
     Indication: Product used for unknown indication
     Route: 065
  412. TRAMADOL HYDROCHLORIDE [Suspect]
     Active Substance: TRAMADOL HYDROCHLORIDE
     Route: 065
  413. TRAMADOL HYDROCHLORIDE [Suspect]
     Active Substance: TRAMADOL HYDROCHLORIDE
     Route: 065
  414. DICLOFENAC SODIUM [Suspect]
     Active Substance: DICLOFENAC SODIUM
     Indication: Product used for unknown indication
     Route: 065
  415. DICLOFENAC SODIUM [Suspect]
     Active Substance: DICLOFENAC SODIUM
  416. DICLOFENAC SODIUM [Suspect]
     Active Substance: DICLOFENAC SODIUM
     Route: 065
  417. DICLOFENAC SODIUM [Suspect]
     Active Substance: DICLOFENAC SODIUM
     Route: 065
  418. DICLOFENAC SODIUM [Suspect]
     Active Substance: DICLOFENAC SODIUM
     Route: 065
  419. DICLOFENAC SODIUM [Suspect]
     Active Substance: DICLOFENAC SODIUM
  420. DICLOFENAC SODIUM [Suspect]
     Active Substance: DICLOFENAC SODIUM
     Route: 065
  421. DICLOFENAC SODIUM [Suspect]
     Active Substance: DICLOFENAC SODIUM
     Route: 065
  422. DICLOFENAC SODIUM [Suspect]
     Active Substance: DICLOFENAC SODIUM
     Route: 065
  423. DICLOFENAC SODIUM [Suspect]
     Active Substance: DICLOFENAC SODIUM
     Route: 058
  424. DICLOFENAC SODIUM [Suspect]
     Active Substance: DICLOFENAC SODIUM
     Route: 065
  425. DICLOFENAC SODIUM [Suspect]
     Active Substance: DICLOFENAC SODIUM
     Route: 065
  426. DOMPERIDONE MALEATE [Suspect]
     Active Substance: DOMPERIDONE MALEATE
     Indication: Product used for unknown indication
     Route: 065
  427. DOMPERIDONE MALEATE [Suspect]
     Active Substance: DOMPERIDONE MALEATE
     Route: 065
  428. DOMPERIDONE MALEATE [Suspect]
     Active Substance: DOMPERIDONE MALEATE
     Route: 065
  429. DOMPERIDONE MALEATE [Suspect]
     Active Substance: DOMPERIDONE MALEATE
     Route: 065
  430. FOLIC ACID [Suspect]
     Active Substance: FOLIC ACID
     Indication: Rheumatoid arthritis
     Route: 065
  431. FOLIC ACID [Suspect]
     Active Substance: FOLIC ACID
     Indication: Product used for unknown indication
  432. FOLIC ACID [Suspect]
     Active Substance: FOLIC ACID
  433. FOLIC ACID [Suspect]
     Active Substance: FOLIC ACID
     Route: 065
  434. FOLIC ACID [Suspect]
     Active Substance: FOLIC ACID
  435. FOLIC ACID [Suspect]
     Active Substance: FOLIC ACID
     Route: 065
  436. FOLIC ACID [Suspect]
     Active Substance: FOLIC ACID
  437. FOLIC ACID [Suspect]
     Active Substance: FOLIC ACID
     Dosage: 1 MILLIGRAM
  438. FOLIC ACID [Suspect]
     Active Substance: FOLIC ACID
     Route: 065
  439. FOLIC ACID [Suspect]
     Active Substance: FOLIC ACID
  440. FOLIC ACID [Suspect]
     Active Substance: FOLIC ACID
     Route: 065
  441. FOLIC ACID [Suspect]
     Active Substance: FOLIC ACID
     Route: 065
  442. FOLIC ACID [Suspect]
     Active Substance: FOLIC ACID
     Route: 065
  443. FOLIC ACID [Suspect]
     Active Substance: FOLIC ACID
     Route: 065
  444. FOLIC ACID [Suspect]
     Active Substance: FOLIC ACID
  445. FOLIC ACID [Suspect]
     Active Substance: FOLIC ACID
     Route: 065
  446. FOLIC ACID [Suspect]
     Active Substance: FOLIC ACID
  447. FOLIC ACID [Suspect]
     Active Substance: FOLIC ACID
  448. FOLIC ACID [Suspect]
     Active Substance: FOLIC ACID
     Route: 065
  449. FOLIC ACID [Suspect]
     Active Substance: FOLIC ACID
  450. FOLIC ACID [Suspect]
     Active Substance: FOLIC ACID
     Route: 065
  451. FOLIC ACID [Suspect]
     Active Substance: FOLIC ACID
  452. FOLIC ACID [Suspect]
     Active Substance: FOLIC ACID
     Dosage: 1 MILLIGRAM
  453. FOLIC ACID [Suspect]
     Active Substance: FOLIC ACID
     Route: 065
  454. FOLIC ACID [Suspect]
     Active Substance: FOLIC ACID
  455. FOLIC ACID [Suspect]
     Active Substance: FOLIC ACID
     Route: 065
  456. FOLIC ACID [Suspect]
     Active Substance: FOLIC ACID
     Route: 065
  457. FOLIC ACID [Suspect]
     Active Substance: FOLIC ACID
     Route: 065
  458. FOLIC ACID [Suspect]
     Active Substance: FOLIC ACID
     Route: 065
  459. FOLIC ACID [Suspect]
     Active Substance: FOLIC ACID
  460. FOLIC ACID [Suspect]
     Active Substance: FOLIC ACID
     Route: 065
  461. FOLIC ACID [Suspect]
     Active Substance: FOLIC ACID
     Route: 048
  462. FOLIC ACID [Suspect]
     Active Substance: FOLIC ACID
     Route: 048
  463. FOLIC ACID [Suspect]
     Active Substance: FOLIC ACID
     Route: 065
  464. FOLIC ACID [Suspect]
     Active Substance: FOLIC ACID
     Route: 048
  465. FOLIC ACID [Suspect]
     Active Substance: FOLIC ACID
     Route: 065
  466. FOLIC ACID [Suspect]
     Active Substance: FOLIC ACID
     Route: 058
  467. FOLIC ACID [Suspect]
     Active Substance: FOLIC ACID
     Route: 048
  468. FOLIC ACID [Suspect]
     Active Substance: FOLIC ACID
     Route: 065
  469. FOLIC ACID [Suspect]
     Active Substance: FOLIC ACID
     Route: 049
  470. FOLIC ACID [Suspect]
     Active Substance: FOLIC ACID
     Route: 065
  471. FOLIC ACID [Suspect]
     Active Substance: FOLIC ACID
     Route: 065
  472. FOLIC ACID [Suspect]
     Active Substance: FOLIC ACID
     Route: 065
  473. FOLIC ACID [Suspect]
     Active Substance: FOLIC ACID
     Route: 065
  474. FOLIC ACID [Suspect]
     Active Substance: FOLIC ACID
     Route: 048
  475. HYDROXYCHLOROQUINE SULFATE [Suspect]
     Active Substance: HYDROXYCHLOROQUINE SULFATE
     Indication: Rheumatoid arthritis
     Dosage: 40 MILLIGRAM
  476. HYDROXYCHLOROQUINE SULFATE [Suspect]
     Active Substance: HYDROXYCHLOROQUINE SULFATE
     Indication: Product used for unknown indication
     Dosage: 1 MILLIGRAM
  477. HYDROXYCHLOROQUINE SULFATE [Suspect]
     Active Substance: HYDROXYCHLOROQUINE SULFATE
     Dosage: 400 MILLIGRAM
  478. HYDROXYCHLOROQUINE SULFATE [Suspect]
     Active Substance: HYDROXYCHLOROQUINE SULFATE
     Route: 065
  479. HYDROXYCHLOROQUINE SULFATE [Suspect]
     Active Substance: HYDROXYCHLOROQUINE SULFATE
     Route: 065
  480. HYDROXYCHLOROQUINE SULFATE [Suspect]
     Active Substance: HYDROXYCHLOROQUINE SULFATE
     Route: 065
  481. HYDROXYCHLOROQUINE SULFATE [Suspect]
     Active Substance: HYDROXYCHLOROQUINE SULFATE
  482. HYDROXYCHLOROQUINE SULFATE [Suspect]
     Active Substance: HYDROXYCHLOROQUINE SULFATE
  483. HYDROXYCHLOROQUINE SULFATE [Suspect]
     Active Substance: HYDROXYCHLOROQUINE SULFATE
  484. HYDROXYCHLOROQUINE SULFATE [Suspect]
     Active Substance: HYDROXYCHLOROQUINE SULFATE
  485. HYDROXYCHLOROQUINE SULFATE [Suspect]
     Active Substance: HYDROXYCHLOROQUINE SULFATE
  486. HYDROXYCHLOROQUINE SULFATE [Suspect]
     Active Substance: HYDROXYCHLOROQUINE SULFATE
     Dosage: 400 MILLIGRAM
     Route: 065
  487. HYDROXYCHLOROQUINE SULFATE [Suspect]
     Active Substance: HYDROXYCHLOROQUINE SULFATE
  488. HYDROXYCHLOROQUINE SULFATE [Suspect]
     Active Substance: HYDROXYCHLOROQUINE SULFATE
  489. HYDROXYCHLOROQUINE SULFATE [Suspect]
     Active Substance: HYDROXYCHLOROQUINE SULFATE
     Dosage: 4000 MILLIGRAM
  490. HYDROXYCHLOROQUINE SULFATE [Suspect]
     Active Substance: HYDROXYCHLOROQUINE SULFATE
     Dosage: 40 MILLIGRAM
  491. HYDROXYCHLOROQUINE SULFATE [Suspect]
     Active Substance: HYDROXYCHLOROQUINE SULFATE
     Dosage: 1 MILLIGRAM
  492. HYDROXYCHLOROQUINE SULFATE [Suspect]
     Active Substance: HYDROXYCHLOROQUINE SULFATE
     Dosage: 400 MILLIGRAM
  493. HYDROXYCHLOROQUINE SULFATE [Suspect]
     Active Substance: HYDROXYCHLOROQUINE SULFATE
     Route: 065
  494. HYDROXYCHLOROQUINE SULFATE [Suspect]
     Active Substance: HYDROXYCHLOROQUINE SULFATE
     Route: 065
  495. HYDROXYCHLOROQUINE SULFATE [Suspect]
     Active Substance: HYDROXYCHLOROQUINE SULFATE
     Route: 065
  496. HYDROXYCHLOROQUINE SULFATE [Suspect]
     Active Substance: HYDROXYCHLOROQUINE SULFATE
  497. HYDROXYCHLOROQUINE SULFATE [Suspect]
     Active Substance: HYDROXYCHLOROQUINE SULFATE
  498. HYDROXYCHLOROQUINE SULFATE [Suspect]
     Active Substance: HYDROXYCHLOROQUINE SULFATE
  499. HYDROXYCHLOROQUINE SULFATE [Suspect]
     Active Substance: HYDROXYCHLOROQUINE SULFATE
  500. HYDROXYCHLOROQUINE SULFATE [Suspect]
     Active Substance: HYDROXYCHLOROQUINE SULFATE
  501. HYDROXYCHLOROQUINE SULFATE [Suspect]
     Active Substance: HYDROXYCHLOROQUINE SULFATE
     Dosage: 400 MILLIGRAM
     Route: 065
  502. HYDROXYCHLOROQUINE SULFATE [Suspect]
     Active Substance: HYDROXYCHLOROQUINE SULFATE
  503. HYDROXYCHLOROQUINE SULFATE [Suspect]
     Active Substance: HYDROXYCHLOROQUINE SULFATE
  504. HYDROXYCHLOROQUINE SULFATE [Suspect]
     Active Substance: HYDROXYCHLOROQUINE SULFATE
     Dosage: 4000 MILLIGRAM
  505. HYDROXYCHLOROQUINE SULFATE [Suspect]
     Active Substance: HYDROXYCHLOROQUINE SULFATE
     Route: 048
  506. HYDROXYCHLOROQUINE SULFATE [Suspect]
     Active Substance: HYDROXYCHLOROQUINE SULFATE
     Route: 048
  507. HYDROXYCHLOROQUINE SULFATE [Suspect]
     Active Substance: HYDROXYCHLOROQUINE SULFATE
     Route: 048
  508. HYDROXYCHLOROQUINE SULFATE [Suspect]
     Active Substance: HYDROXYCHLOROQUINE SULFATE
     Route: 065
  509. HYDROXYCHLOROQUINE SULFATE [Suspect]
     Active Substance: HYDROXYCHLOROQUINE SULFATE
     Route: 065
  510. HYDROXYCHLOROQUINE SULFATE [Suspect]
     Active Substance: HYDROXYCHLOROQUINE SULFATE
     Route: 065
  511. HYDROXYCHLOROQUINE SULFATE [Suspect]
     Active Substance: HYDROXYCHLOROQUINE SULFATE
     Route: 042
  512. HYDROXYCHLOROQUINE SULFATE [Suspect]
     Active Substance: HYDROXYCHLOROQUINE SULFATE
     Route: 042
  513. HYDROXYCHLOROQUINE SULFATE [Suspect]
     Active Substance: HYDROXYCHLOROQUINE SULFATE
     Route: 005
  514. HYDROXYCHLOROQUINE SULFATE [Suspect]
     Active Substance: HYDROXYCHLOROQUINE SULFATE
     Route: 048
  515. HYDROXYCHLOROQUINE SULFATE [Suspect]
     Active Substance: HYDROXYCHLOROQUINE SULFATE
     Route: 048
  516. HYDROXYCHLOROQUINE SULFATE [Suspect]
     Active Substance: HYDROXYCHLOROQUINE SULFATE
     Route: 065
  517. HYDROXYCHLOROQUINE SULFATE [Suspect]
     Active Substance: HYDROXYCHLOROQUINE SULFATE
     Route: 048
  518. HYDROXYCHLOROQUINE SULFATE [Suspect]
     Active Substance: HYDROXYCHLOROQUINE SULFATE
     Route: 048
  519. HYDROXYCHLOROQUINE SULFATE [Suspect]
     Active Substance: HYDROXYCHLOROQUINE SULFATE
     Route: 049
  520. PHENYLEPHRINE HYDROCHLORIDE [Suspect]
     Active Substance: PHENYLEPHRINE HYDROCHLORIDE
     Indication: Rheumatoid arthritis
     Route: 065
  521. PHENYLEPHRINE HYDROCHLORIDE [Suspect]
     Active Substance: PHENYLEPHRINE HYDROCHLORIDE
  522. PHENYLEPHRINE HYDROCHLORIDE [Suspect]
     Active Substance: PHENYLEPHRINE HYDROCHLORIDE
     Route: 065
  523. PHENYLEPHRINE HYDROCHLORIDE [Suspect]
     Active Substance: PHENYLEPHRINE HYDROCHLORIDE
  524. PHENYLEPHRINE HYDROCHLORIDE [Suspect]
     Active Substance: PHENYLEPHRINE HYDROCHLORIDE
     Route: 065
  525. PHENYLEPHRINE HYDROCHLORIDE [Suspect]
     Active Substance: PHENYLEPHRINE HYDROCHLORIDE
     Route: 030
  526. PSEUDOEPHEDRINE HYDROCHLORIDE [Suspect]
     Active Substance: PSEUDOEPHEDRINE HYDROCHLORIDE
     Indication: Rheumatoid arthritis
     Route: 065
  527. PSEUDOEPHEDRINE HYDROCHLORIDE [Suspect]
     Active Substance: PSEUDOEPHEDRINE HYDROCHLORIDE
     Route: 065
  528. PSEUDOEPHEDRINE HYDROCHLORIDE [Suspect]
     Active Substance: PSEUDOEPHEDRINE HYDROCHLORIDE
     Route: 065
  529. PSEUDOEPHEDRINE HYDROCHLORIDE [Suspect]
     Active Substance: PSEUDOEPHEDRINE HYDROCHLORIDE
     Route: 065
  530. PSEUDOEPHEDRINE HYDROCHLORIDE [Suspect]
     Active Substance: PSEUDOEPHEDRINE HYDROCHLORIDE
     Route: 065
  531. PSEUDOEPHEDRINE HYDROCHLORIDE [Suspect]
     Active Substance: PSEUDOEPHEDRINE HYDROCHLORIDE
     Route: 065
  532. PSEUDOEPHEDRINE HYDROCHLORIDE [Suspect]
     Active Substance: PSEUDOEPHEDRINE HYDROCHLORIDE
     Route: 065
  533. PSEUDOEPHEDRINE HYDROCHLORIDE [Suspect]
     Active Substance: PSEUDOEPHEDRINE HYDROCHLORIDE
     Route: 065
  534. PSEUDOEPHEDRINE HYDROCHLORIDE [Suspect]
     Active Substance: PSEUDOEPHEDRINE HYDROCHLORIDE
     Route: 065
  535. PSEUDOEPHEDRINE HYDROCHLORIDE [Suspect]
     Active Substance: PSEUDOEPHEDRINE HYDROCHLORIDE
     Route: 065
  536. PSEUDOEPHEDRINE HYDROCHLORIDE [Suspect]
     Active Substance: PSEUDOEPHEDRINE HYDROCHLORIDE
     Route: 065
  537. PSEUDOEPHEDRINE HYDROCHLORIDE [Suspect]
     Active Substance: PSEUDOEPHEDRINE HYDROCHLORIDE
     Route: 065
  538. PSEUDOEPHEDRINE HYDROCHLORIDE [Suspect]
     Active Substance: PSEUDOEPHEDRINE HYDROCHLORIDE
     Route: 065
  539. PSEUDOEPHEDRINE HYDROCHLORIDE [Suspect]
     Active Substance: PSEUDOEPHEDRINE HYDROCHLORIDE
     Route: 065
  540. PSEUDOEPHEDRINE HYDROCHLORIDE [Suspect]
     Active Substance: PSEUDOEPHEDRINE HYDROCHLORIDE
     Route: 065
  541. PSEUDOEPHEDRINE HYDROCHLORIDE [Suspect]
     Active Substance: PSEUDOEPHEDRINE HYDROCHLORIDE
     Route: 065
  542. PSEUDOEPHEDRINE HYDROCHLORIDE [Suspect]
     Active Substance: PSEUDOEPHEDRINE HYDROCHLORIDE
     Route: 065
  543. PSEUDOEPHEDRINE HYDROCHLORIDE [Suspect]
     Active Substance: PSEUDOEPHEDRINE HYDROCHLORIDE
     Route: 065
  544. PSEUDOEPHEDRINE HYDROCHLORIDE [Suspect]
     Active Substance: PSEUDOEPHEDRINE HYDROCHLORIDE
     Route: 065
  545. PSEUDOEPHEDRINE HYDROCHLORIDE [Suspect]
     Active Substance: PSEUDOEPHEDRINE HYDROCHLORIDE
     Route: 065
  546. RANITIDINE [Suspect]
     Active Substance: RANITIDINE
     Indication: Rheumatoid arthritis
     Route: 065
  547. RANITIDINE [Suspect]
     Active Substance: RANITIDINE
     Indication: Product used for unknown indication
     Route: 065
  548. RANITIDINE [Suspect]
     Active Substance: RANITIDINE
     Route: 065
  549. RANITIDINE [Suspect]
     Active Substance: RANITIDINE
     Route: 065
  550. ACETAMINOPHEN\TRAMADOL [Suspect]
     Active Substance: ACETAMINOPHEN\TRAMADOL
     Indication: Product used for unknown indication
     Route: 065
  551. ACETAMINOPHEN\TRAMADOL [Suspect]
     Active Substance: ACETAMINOPHEN\TRAMADOL
     Route: 065
  552. ACTEMRA [Suspect]
     Active Substance: TOCILIZUMAB
     Indication: Rheumatoid arthritis
  553. ACTEMRA [Suspect]
     Active Substance: TOCILIZUMAB
     Indication: Product used for unknown indication
  554. ACTEMRA [Suspect]
     Active Substance: TOCILIZUMAB
  555. ACTEMRA [Suspect]
     Active Substance: TOCILIZUMAB
  556. ACTEMRA [Suspect]
     Active Substance: TOCILIZUMAB
  557. ACTEMRA [Suspect]
     Active Substance: TOCILIZUMAB
  558. ACTEMRA [Suspect]
     Active Substance: TOCILIZUMAB
  559. ACTEMRA [Suspect]
     Active Substance: TOCILIZUMAB
  560. ACTEMRA [Suspect]
     Active Substance: TOCILIZUMAB
  561. ACTEMRA [Suspect]
     Active Substance: TOCILIZUMAB
  562. ACTEMRA [Suspect]
     Active Substance: TOCILIZUMAB
  563. ACTEMRA [Suspect]
     Active Substance: TOCILIZUMAB
  564. ACTEMRA [Suspect]
     Active Substance: TOCILIZUMAB
     Route: 061
  565. ACTEMRA [Suspect]
     Active Substance: TOCILIZUMAB
     Route: 042
  566. ACTEMRA [Suspect]
     Active Substance: TOCILIZUMAB
     Route: 058
  567. ACTEMRA [Suspect]
     Active Substance: TOCILIZUMAB
     Route: 042
  568. ACTEMRA [Suspect]
     Active Substance: TOCILIZUMAB
     Route: 042
  569. ACTEMRA [Suspect]
     Active Substance: TOCILIZUMAB
     Route: 042
  570. ACTEMRA [Suspect]
     Active Substance: TOCILIZUMAB
     Route: 065
  571. ACTEMRA [Suspect]
     Active Substance: TOCILIZUMAB
     Route: 065
  572. ACTEMRA [Suspect]
     Active Substance: TOCILIZUMAB
     Route: 065
  573. ACTEMRA [Suspect]
     Active Substance: TOCILIZUMAB
     Route: 061
  574. ACTEMRA [Suspect]
     Active Substance: TOCILIZUMAB
     Route: 042
  575. ACTEMRA [Suspect]
     Active Substance: TOCILIZUMAB
     Route: 042
  576. ACTEMRA [Suspect]
     Active Substance: TOCILIZUMAB
     Route: 042
  577. ACTEMRA [Suspect]
     Active Substance: TOCILIZUMAB
     Route: 042
  578. ACTEMRA [Suspect]
     Active Substance: TOCILIZUMAB
     Route: 058
  579. ACTEMRA [Suspect]
     Active Substance: TOCILIZUMAB
     Route: 042
  580. ACTEMRA [Suspect]
     Active Substance: TOCILIZUMAB
     Route: 061
  581. ACTEMRA [Suspect]
     Active Substance: TOCILIZUMAB
     Route: 065
  582. ACTEMRA [Suspect]
     Active Substance: TOCILIZUMAB
     Route: 040
  583. ACTEMRA [Suspect]
     Active Substance: TOCILIZUMAB
     Route: 040
  584. ACTEMRA [Suspect]
     Active Substance: TOCILIZUMAB
  585. ADALIMUMAB [Suspect]
     Active Substance: ADALIMUMAB
     Indication: Rheumatoid arthritis
  586. ADALIMUMAB [Suspect]
     Active Substance: ADALIMUMAB
     Indication: Product used for unknown indication
  587. ADALIMUMAB [Suspect]
     Active Substance: ADALIMUMAB
  588. ADALIMUMAB [Suspect]
     Active Substance: ADALIMUMAB
  589. ADALIMUMAB [Suspect]
     Active Substance: ADALIMUMAB
  590. ADALIMUMAB [Suspect]
     Active Substance: ADALIMUMAB
  591. ADALIMUMAB [Suspect]
     Active Substance: ADALIMUMAB
     Route: 058
  592. ADALIMUMAB [Suspect]
     Active Substance: ADALIMUMAB
     Route: 058
  593. ADALIMUMAB [Suspect]
     Active Substance: ADALIMUMAB
     Route: 058
  594. ADALIMUMAB [Suspect]
     Active Substance: ADALIMUMAB
     Route: 042
  595. ADALIMUMAB [Suspect]
     Active Substance: ADALIMUMAB
     Route: 042
  596. ADALIMUMAB [Suspect]
     Active Substance: ADALIMUMAB
     Route: 058
  597. ADALIMUMAB [Suspect]
     Active Substance: ADALIMUMAB
  598. ADALIMUMAB [Suspect]
     Active Substance: ADALIMUMAB
     Route: 058
  599. AIMOVIG [Suspect]
     Active Substance: ERENUMAB-AOOE
     Indication: Migraine
     Route: 065
  600. AIMOVIG [Suspect]
     Active Substance: ERENUMAB-AOOE
     Indication: Rheumatoid arthritis
     Route: 065
  601. AIMOVIG [Suspect]
     Active Substance: ERENUMAB-AOOE
     Route: 065
  602. AIMOVIG [Suspect]
     Active Substance: ERENUMAB-AOOE
     Route: 065
  603. AIMOVIG [Suspect]
     Active Substance: ERENUMAB-AOOE
     Route: 065
  604. AIMOVIG [Suspect]
     Active Substance: ERENUMAB-AOOE
     Route: 065
  605. AIMOVIG [Suspect]
     Active Substance: ERENUMAB-AOOE
     Route: 065
  606. ALENDRONATE SODIUM\CHOLECALCIFEROL [Suspect]
     Active Substance: ALENDRONATE SODIUM\CHOLECALCIFEROL
     Indication: Rheumatoid arthritis
     Route: 065
  607. ALENDRONATE SODIUM\CHOLECALCIFEROL [Suspect]
     Active Substance: ALENDRONATE SODIUM\CHOLECALCIFEROL
     Route: 065
  608. ALENDRONATE SODIUM\CHOLECALCIFEROL [Suspect]
     Active Substance: ALENDRONATE SODIUM\CHOLECALCIFEROL
     Route: 065
  609. APREMILAST [Suspect]
     Active Substance: APREMILAST
     Indication: Product used for unknown indication
     Route: 065
  610. APREMILAST [Suspect]
     Active Substance: APREMILAST
  611. APREMILAST [Suspect]
     Active Substance: APREMILAST
     Route: 065
  612. APREMILAST [Suspect]
     Active Substance: APREMILAST
     Dosage: 6 MILLIGRAM
  613. APREMILAST [Suspect]
     Active Substance: APREMILAST
     Dosage: 6 MILLIGRAM
     Route: 065
  614. APREMILAST [Suspect]
     Active Substance: APREMILAST
     Route: 065
  615. APREMILAST [Suspect]
     Active Substance: APREMILAST
  616. APREMILAST [Suspect]
     Active Substance: APREMILAST
     Route: 065
  617. APREMILAST [Suspect]
     Active Substance: APREMILAST
     Dosage: 6 MILLIGRAM
  618. APREMILAST [Suspect]
     Active Substance: APREMILAST
     Dosage: 6 MILLIGRAM
     Route: 065
  619. APREMILAST [Suspect]
     Active Substance: APREMILAST
     Route: 065
  620. APREMILAST [Suspect]
     Active Substance: APREMILAST
     Route: 048
  621. APREMILAST [Suspect]
     Active Substance: APREMILAST
     Route: 065
  622. APREMILAST [Suspect]
     Active Substance: APREMILAST
     Route: 048
  623. APREMILAST [Suspect]
     Active Substance: APREMILAST
     Route: 065
  624. ATOMOXETINE HYDROCHLORIDE [Suspect]
     Active Substance: ATOMOXETINE HYDROCHLORIDE
     Indication: Migraine
     Route: 065
  625. ATOMOXETINE HYDROCHLORIDE [Suspect]
     Active Substance: ATOMOXETINE HYDROCHLORIDE
     Route: 065
  626. ATOMOXETINE HYDROCHLORIDE [Suspect]
     Active Substance: ATOMOXETINE HYDROCHLORIDE
     Route: 065
  627. ATOMOXETINE HYDROCHLORIDE [Suspect]
     Active Substance: ATOMOXETINE HYDROCHLORIDE
     Dosage: 1 DOSAGE FORM
     Route: 065
  628. ATOMOXETINE HYDROCHLORIDE [Suspect]
     Active Substance: ATOMOXETINE HYDROCHLORIDE
     Dosage: 1 DOSAGE FORM
     Route: 065
  629. BOTULINUM TOXIN TYPE A [Suspect]
     Active Substance: BOTULINUM TOXIN TYPE A
     Indication: Product used for unknown indication
     Route: 065
  630. BOTULINUM TOXIN TYPE A [Suspect]
     Active Substance: BOTULINUM TOXIN TYPE A
     Route: 065
  631. BOTULINUM TOXIN TYPE A [Suspect]
     Active Substance: BOTULINUM TOXIN TYPE A
     Route: 065
  632. BUTRANS [Suspect]
     Active Substance: BUPRENORPHINE
     Indication: Product used for unknown indication
     Route: 065
  633. BUTRANS [Suspect]
     Active Substance: BUPRENORPHINE
     Route: 065
  634. BUTRANS [Suspect]
     Active Substance: BUPRENORPHINE
     Route: 065
  635. CALCIUM ASCORBATE [Suspect]
     Active Substance: CALCIUM ASCORBATE
     Indication: Product used for unknown indication
     Route: 065
  636. CALCIUM ASCORBATE [Suspect]
     Active Substance: CALCIUM ASCORBATE
     Route: 065
  637. CALCIUM ASCORBATE [Suspect]
     Active Substance: CALCIUM ASCORBATE
     Route: 065
  638. CELEBREX [Suspect]
     Active Substance: CELECOXIB
     Indication: Product used for unknown indication
     Dosage: 1 DOSAGE FORM
     Route: 065
  639. CELEBREX [Suspect]
     Active Substance: CELECOXIB
     Indication: Rheumatoid arthritis
     Dosage: 2 DOSAGE FORM
  640. CELEBREX [Suspect]
     Active Substance: CELECOXIB
     Route: 065
  641. CELEBREX [Suspect]
     Active Substance: CELECOXIB
     Route: 065
  642. CELEBREX [Suspect]
     Active Substance: CELECOXIB
     Dosage: 1 DOSAGE FORM
     Route: 065
  643. CELEBREX [Suspect]
     Active Substance: CELECOXIB
     Dosage: 2 DOSAGE FORM
  644. CELEBREX [Suspect]
     Active Substance: CELECOXIB
     Route: 065
  645. CELEBREX [Suspect]
     Active Substance: CELECOXIB
     Route: 065
  646. CELEBREX [Suspect]
     Active Substance: CELECOXIB
     Route: 065
  647. CELEBREX [Suspect]
     Active Substance: CELECOXIB
     Route: 048
  648. CELEBREX [Suspect]
     Active Substance: CELECOXIB
     Route: 065
  649. CELEBREX [Suspect]
     Active Substance: CELECOXIB
     Route: 065
  650. CERTOLIZUMAB PEGOL [Suspect]
     Active Substance: CERTOLIZUMAB PEGOL
     Indication: Product used for unknown indication
  651. CERTOLIZUMAB PEGOL [Suspect]
     Active Substance: CERTOLIZUMAB PEGOL
  652. CERTOLIZUMAB PEGOL [Suspect]
     Active Substance: CERTOLIZUMAB PEGOL
     Route: 065
  653. CERTOLIZUMAB PEGOL [Suspect]
     Active Substance: CERTOLIZUMAB PEGOL
  654. CERTOLIZUMAB PEGOL [Suspect]
     Active Substance: CERTOLIZUMAB PEGOL
  655. CERTOLIZUMAB PEGOL [Suspect]
     Active Substance: CERTOLIZUMAB PEGOL
     Route: 065
  656. CERTOLIZUMAB PEGOL [Suspect]
     Active Substance: CERTOLIZUMAB PEGOL
     Route: 058
  657. CERTOLIZUMAB PEGOL [Suspect]
     Active Substance: CERTOLIZUMAB PEGOL
     Route: 058
  658. CERTOLIZUMAB PEGOL [Suspect]
     Active Substance: CERTOLIZUMAB PEGOL
     Route: 065
  659. CHLORHEXIDINE GLUCONATE [Suspect]
     Active Substance: CHLORHEXIDINE GLUCONATE
     Indication: Product used for unknown indication
     Route: 061
  660. CHLORHEXIDINE GLUCONATE [Suspect]
     Active Substance: CHLORHEXIDINE GLUCONATE
     Route: 061
  661. CHLORHEXIDINE GLUCONATE [Suspect]
     Active Substance: CHLORHEXIDINE GLUCONATE
     Route: 061
  662. CHOLECALCIFEROL [Suspect]
     Active Substance: CHOLECALCIFEROL
     Indication: Product used for unknown indication
     Route: 065
  663. CHOLECALCIFEROL [Suspect]
     Active Substance: CHOLECALCIFEROL
     Route: 065
  664. CHOLECALCIFEROL [Suspect]
     Active Substance: CHOLECALCIFEROL
     Route: 065
  665. CIMZIA [Suspect]
     Active Substance: CERTOLIZUMAB PEGOL
     Indication: Psoriasis
  666. CIMZIA [Suspect]
     Active Substance: CERTOLIZUMAB PEGOL
     Indication: Product used for unknown indication
  667. CIMZIA [Suspect]
     Active Substance: CERTOLIZUMAB PEGOL
     Indication: Rheumatoid arthritis
  668. CIMZIA [Suspect]
     Active Substance: CERTOLIZUMAB PEGOL
     Dosage: 1 DOSAGE FORMS
  669. CIMZIA [Suspect]
     Active Substance: CERTOLIZUMAB PEGOL
  670. CIMZIA [Suspect]
     Active Substance: CERTOLIZUMAB PEGOL
  671. CIMZIA [Suspect]
     Active Substance: CERTOLIZUMAB PEGOL
     Route: 065
  672. CIMZIA [Suspect]
     Active Substance: CERTOLIZUMAB PEGOL
     Route: 065
  673. CIMZIA [Suspect]
     Active Substance: CERTOLIZUMAB PEGOL
  674. CIMZIA [Suspect]
     Active Substance: CERTOLIZUMAB PEGOL
  675. CIMZIA [Suspect]
     Active Substance: CERTOLIZUMAB PEGOL
  676. CIMZIA [Suspect]
     Active Substance: CERTOLIZUMAB PEGOL
     Dosage: 1 DOSAGE FORMS
  677. CIMZIA [Suspect]
     Active Substance: CERTOLIZUMAB PEGOL
  678. CIMZIA [Suspect]
     Active Substance: CERTOLIZUMAB PEGOL
  679. CIMZIA [Suspect]
     Active Substance: CERTOLIZUMAB PEGOL
     Route: 065
  680. CIMZIA [Suspect]
     Active Substance: CERTOLIZUMAB PEGOL
     Route: 065
  681. CIMZIA [Suspect]
     Active Substance: CERTOLIZUMAB PEGOL
     Route: 058
  682. CIMZIA [Suspect]
     Active Substance: CERTOLIZUMAB PEGOL
     Route: 058
  683. CIMZIA [Suspect]
     Active Substance: CERTOLIZUMAB PEGOL
     Route: 005
  684. CIMZIA [Suspect]
     Active Substance: CERTOLIZUMAB PEGOL
     Dosage: 1 DOSAGE FORMS
     Route: 058
  685. CIMZIA [Suspect]
     Active Substance: CERTOLIZUMAB PEGOL
     Route: 058
  686. CIMZIA [Suspect]
     Active Substance: CERTOLIZUMAB PEGOL
     Route: 058
  687. CIMZIA [Suspect]
     Active Substance: CERTOLIZUMAB PEGOL
     Route: 065
  688. CIMZIA [Suspect]
     Active Substance: CERTOLIZUMAB PEGOL
     Route: 065
  689. CORTISONE (HYDROCORTISONE) [Suspect]
     Active Substance: HYDROCORTISONE
     Indication: Rheumatoid arthritis
  690. CORTISONE (HYDROCORTISONE) [Suspect]
     Active Substance: HYDROCORTISONE
  691. CORTISONE (HYDROCORTISONE) [Suspect]
     Active Substance: HYDROCORTISONE
  692. CORTISONE (HYDROCORTISONE) [Suspect]
     Active Substance: HYDROCORTISONE
  693. CORTISONE (HYDROCORTISONE) [Suspect]
     Active Substance: HYDROCORTISONE
     Route: 058
  694. CORTISONE (HYDROCORTISONE) [Suspect]
     Active Substance: HYDROCORTISONE
     Route: 048
  695. COSENTYX [Suspect]
     Active Substance: SECUKINUMAB
     Indication: Psoriatic arthropathy
     Route: 065
  696. COSENTYX [Suspect]
     Active Substance: SECUKINUMAB
     Indication: Product used for unknown indication
  697. COSENTYX [Suspect]
     Active Substance: SECUKINUMAB
     Indication: Rheumatoid arthritis
  698. COSENTYX [Suspect]
     Active Substance: SECUKINUMAB
     Route: 065
  699. COSENTYX [Suspect]
     Active Substance: SECUKINUMAB
  700. COSENTYX [Suspect]
     Active Substance: SECUKINUMAB
  701. COSENTYX [Suspect]
     Active Substance: SECUKINUMAB
     Route: 065
  702. COSENTYX [Suspect]
     Active Substance: SECUKINUMAB
     Route: 005
  703. COSENTYX [Suspect]
     Active Substance: SECUKINUMAB
     Route: 042
  704. COSENTYX [Suspect]
     Active Substance: SECUKINUMAB
     Route: 005
  705. COSENTYX [Suspect]
     Active Substance: SECUKINUMAB
     Route: 065
  706. DICLOFENAC POTASSIUM [Suspect]
     Active Substance: DICLOFENAC POTASSIUM
     Indication: Product used for unknown indication
     Route: 065
  707. DICLOFENAC POTASSIUM [Suspect]
     Active Substance: DICLOFENAC POTASSIUM
     Route: 065
  708. DICLOFENAC POTASSIUM [Suspect]
     Active Substance: DICLOFENAC POTASSIUM
     Route: 065
  709. DICLOFENAC POTASSIUM [Suspect]
     Active Substance: DICLOFENAC POTASSIUM
     Route: 065
  710. DICLOFENAC POTASSIUM [Suspect]
     Active Substance: DICLOFENAC POTASSIUM
     Route: 065
  711. DICLOFENAC POTASSIUM [Suspect]
     Active Substance: DICLOFENAC POTASSIUM
     Route: 065
  712. DICLOFENAC POTASSIUM [Suspect]
     Active Substance: DICLOFENAC POTASSIUM
     Route: 065
  713. DICLOFENAC POTASSIUM [Suspect]
     Active Substance: DICLOFENAC POTASSIUM
     Route: 065
  714. DICLOFENAC POTASSIUM [Suspect]
     Active Substance: DICLOFENAC POTASSIUM
     Route: 065
  715. ENBREL [Suspect]
     Active Substance: ETANERCEPT
     Indication: Rheumatoid arthritis
     Dosage: 50 MILLIGRAM
  716. ENBREL [Suspect]
     Active Substance: ETANERCEPT
  717. ENBREL [Suspect]
     Active Substance: ETANERCEPT
  718. ENBREL [Suspect]
     Active Substance: ETANERCEPT
     Dosage: 50 MILLIGRAM
  719. ENBREL [Suspect]
     Active Substance: ETANERCEPT
     Dosage: 20 MILLIGRAM
  720. ENBREL [Suspect]
     Active Substance: ETANERCEPT
  721. ENBREL [Suspect]
     Active Substance: ETANERCEPT
     Dosage: 20 MILLIGRAM
  722. ENBREL [Suspect]
     Active Substance: ETANERCEPT
     Dosage: 50 MILLIGRAM
  723. ENBREL [Suspect]
     Active Substance: ETANERCEPT
  724. ENBREL [Suspect]
     Active Substance: ETANERCEPT
  725. ENBREL [Suspect]
     Active Substance: ETANERCEPT
     Dosage: 50 MILLIGRAM
  726. ENBREL [Suspect]
     Active Substance: ETANERCEPT
     Dosage: 20 MILLIGRAM
  727. ENBREL [Suspect]
     Active Substance: ETANERCEPT
  728. ENBREL [Suspect]
     Active Substance: ETANERCEPT
     Dosage: 20 MILLIGRAM
  729. ENBREL [Suspect]
     Active Substance: ETANERCEPT
     Route: 058
  730. ENBREL [Suspect]
     Active Substance: ETANERCEPT
     Route: 058
  731. ENBREL [Suspect]
     Active Substance: ETANERCEPT
     Route: 058
  732. ENBREL [Suspect]
     Active Substance: ETANERCEPT
     Route: 058
  733. ENBREL [Suspect]
     Active Substance: ETANERCEPT
     Route: 058
  734. ENBREL [Suspect]
     Active Substance: ETANERCEPT
     Route: 058
  735. ENBREL [Suspect]
     Active Substance: ETANERCEPT
     Route: 058
  736. ERELZI [Suspect]
     Active Substance: ETANERCEPT-SZZS
     Indication: Rheumatoid arthritis
     Dosage: 50 MILLIGRAM
  737. ERELZI [Suspect]
     Active Substance: ETANERCEPT-SZZS
     Indication: Product used for unknown indication
  738. ERELZI [Suspect]
     Active Substance: ETANERCEPT-SZZS
  739. ERELZI [Suspect]
     Active Substance: ETANERCEPT-SZZS
     Route: 065
  740. ERELZI [Suspect]
     Active Substance: ETANERCEPT-SZZS
  741. ERELZI [Suspect]
     Active Substance: ETANERCEPT-SZZS
     Dosage: 50 MILLIGRAM
  742. ERELZI [Suspect]
     Active Substance: ETANERCEPT-SZZS
  743. ERELZI [Suspect]
     Active Substance: ETANERCEPT-SZZS
  744. ERELZI [Suspect]
     Active Substance: ETANERCEPT-SZZS
     Route: 065
  745. ERELZI [Suspect]
     Active Substance: ETANERCEPT-SZZS
  746. ERELZI [Suspect]
     Active Substance: ETANERCEPT-SZZS
     Route: 058
  747. ERELZI [Suspect]
     Active Substance: ETANERCEPT-SZZS
     Route: 058
  748. ERELZI [Suspect]
     Active Substance: ETANERCEPT-SZZS
     Route: 058
  749. ERELZI [Suspect]
     Active Substance: ETANERCEPT-SZZS
     Route: 065
  750. ERELZI [Suspect]
     Active Substance: ETANERCEPT-SZZS
     Route: 048
  751. ERELZI [Suspect]
     Active Substance: ETANERCEPT-SZZS
     Route: 058
  752. IRON\VITAMINS [Suspect]
     Active Substance: IRON\VITAMINS
     Indication: Product used for unknown indication
     Route: 065
  753. IRON\VITAMINS [Suspect]
     Active Substance: IRON\VITAMINS
     Route: 065
  754. IRON\VITAMINS [Suspect]
     Active Substance: IRON\VITAMINS
     Route: 065
  755. FLUMETHASONE [Suspect]
     Active Substance: FLUMETHASONE
     Indication: Product used for unknown indication
     Route: 065
  756. FLUMETHASONE [Suspect]
     Active Substance: FLUMETHASONE
     Route: 065
  757. FLUMETHASONE [Suspect]
     Active Substance: FLUMETHASONE
     Route: 065
  758. FLUMETHASONE PIVALATE [Suspect]
     Active Substance: FLUMETHASONE PIVALATE
     Indication: Product used for unknown indication
  759. FLUMETHASONE PIVALATE [Suspect]
     Active Substance: FLUMETHASONE PIVALATE
  760. FLUMETHASONE PIVALATE [Suspect]
     Active Substance: FLUMETHASONE PIVALATE
     Route: 065
  761. FLUMETHASONE PIVALATE [Suspect]
     Active Substance: FLUMETHASONE PIVALATE
  762. FLUMETHASONE PIVALATE [Suspect]
     Active Substance: FLUMETHASONE PIVALATE
  763. FLUMETHASONE PIVALATE [Suspect]
     Active Substance: FLUMETHASONE PIVALATE
     Route: 065
  764. FLUMETHASONE PIVALATE [Suspect]
     Active Substance: FLUMETHASONE PIVALATE
     Route: 058
  765. FLUMETHASONE PIVALATE [Suspect]
     Active Substance: FLUMETHASONE PIVALATE
     Route: 003
  766. FLUMETHASONE PIVALATE [Suspect]
     Active Substance: FLUMETHASONE PIVALATE
     Route: 065
  767. GOLD [Suspect]
     Active Substance: GOLD
     Indication: Product used for unknown indication
     Route: 065
  768. GOLD [Suspect]
     Active Substance: GOLD
     Route: 065
  769. GOLD [Suspect]
     Active Substance: GOLD
     Route: 065
  770. GOLD SODIUM THIOMALATE [Suspect]
     Active Substance: GOLD SODIUM THIOMALATE
     Indication: Product used for unknown indication
     Route: 065
  771. GOLD SODIUM THIOMALATE [Suspect]
     Active Substance: GOLD SODIUM THIOMALATE
     Route: 065
  772. GOLD SODIUM THIOMALATE [Suspect]
     Active Substance: GOLD SODIUM THIOMALATE
     Route: 065
  773. HUMIRA [Suspect]
     Active Substance: ADALIMUMAB
     Indication: Rheumatoid arthritis
  774. HUMIRA [Suspect]
     Active Substance: ADALIMUMAB
     Indication: Product used for unknown indication
  775. HUMIRA [Suspect]
     Active Substance: ADALIMUMAB
  776. HUMIRA [Suspect]
     Active Substance: ADALIMUMAB
  777. HUMIRA [Suspect]
     Active Substance: ADALIMUMAB
     Route: 057
  778. HUMIRA [Suspect]
     Active Substance: ADALIMUMAB
     Route: 058
  779. LAMICTAL [Suspect]
     Active Substance: LAMOTRIGINE
     Indication: Product used for unknown indication
  780. LAMICTAL [Suspect]
     Active Substance: LAMOTRIGINE
  781. LAMICTAL [Suspect]
     Active Substance: LAMOTRIGINE
     Route: 048
  782. MAGNESIUM CITRATE [Suspect]
     Active Substance: MAGNESIUM CITRATE
     Indication: Product used for unknown indication
     Route: 065
  783. MAGNESIUM CITRATE [Suspect]
     Active Substance: MAGNESIUM CITRATE
     Route: 065
  784. MAGNESIUM CITRATE [Suspect]
     Active Substance: MAGNESIUM CITRATE
     Route: 065
  785. MYRBETRIQ [Suspect]
     Active Substance: MIRABEGRON
     Indication: Product used for unknown indication
     Dosage: 1 DOSAGE FORM
     Route: 065
  786. MYRBETRIQ [Suspect]
     Active Substance: MIRABEGRON
     Dosage: 1 DOSAGE FORM
     Route: 065
  787. MYRBETRIQ [Suspect]
     Active Substance: MIRABEGRON
     Route: 065
  788. NAPROXEN [Suspect]
     Active Substance: NAPROXEN
     Indication: Product used for unknown indication
     Dosage: 500 MILLIGRAM
     Route: 065
  789. NAPROXEN [Suspect]
     Active Substance: NAPROXEN
     Dosage: 500 MILLIGRAM
     Route: 065
  790. NAPROXEN [Suspect]
     Active Substance: NAPROXEN
     Dosage: 500 MILLIGRAM
     Route: 065
  791. NAPROXEN [Suspect]
     Active Substance: NAPROXEN
     Dosage: 500 MILLIGRAM
     Route: 065
  792. NAPROXEN [Suspect]
     Active Substance: NAPROXEN
     Dosage: 500 MILLIGRAM
     Route: 065
  793. NAPROXEN [Suspect]
     Active Substance: NAPROXEN
     Dosage: 500 MILLIGRAM
     Route: 065
  794. NAPROXEN [Suspect]
     Active Substance: NAPROXEN
     Route: 065
  795. NAPROXEN [Suspect]
     Active Substance: NAPROXEN
     Route: 065
  796. NAPROXEN [Suspect]
     Active Substance: NAPROXEN
     Route: 065
  797. NUCALA [Suspect]
     Active Substance: MEPOLIZUMAB
     Indication: Product used for unknown indication
     Route: 065
  798. NUCALA [Suspect]
     Active Substance: MEPOLIZUMAB
     Route: 065
  799. NUCALA [Suspect]
     Active Substance: MEPOLIZUMAB
     Route: 065
  800. ORENCIA [Suspect]
     Active Substance: ABATACEPT
     Indication: Rheumatoid arthritis
  801. ORENCIA [Suspect]
     Active Substance: ABATACEPT
     Indication: Product used for unknown indication
  802. ORENCIA [Suspect]
     Active Substance: ABATACEPT
  803. ORENCIA [Suspect]
     Active Substance: ABATACEPT
  804. ORENCIA [Suspect]
     Active Substance: ABATACEPT
  805. ORENCIA [Suspect]
     Active Substance: ABATACEPT
     Dosage: 150 MILLIGRAM
  806. ORENCIA [Suspect]
     Active Substance: ABATACEPT
  807. ORENCIA [Suspect]
     Active Substance: ABATACEPT
     Dosage: 17.86 MILLIGRAM
  808. ORENCIA [Suspect]
     Active Substance: ABATACEPT
     Dosage: 125 MILLIGRAM
  809. ORENCIA [Suspect]
     Active Substance: ABATACEPT
     Route: 065
  810. ORENCIA [Suspect]
     Active Substance: ABATACEPT
     Dosage: 17.88 MILLIGRAM
     Route: 065
  811. ORENCIA [Suspect]
     Active Substance: ABATACEPT
  812. ORENCIA [Suspect]
     Active Substance: ABATACEPT
  813. ORENCIA [Suspect]
     Active Substance: ABATACEPT
     Dosage: 18 MILLIGRAM
     Route: 065
  814. ORENCIA [Suspect]
     Active Substance: ABATACEPT
  815. ORENCIA [Suspect]
     Active Substance: ABATACEPT
  816. ORENCIA [Suspect]
     Active Substance: ABATACEPT
  817. ORENCIA [Suspect]
     Active Substance: ABATACEPT
  818. ORENCIA [Suspect]
     Active Substance: ABATACEPT
  819. ORENCIA [Suspect]
     Active Substance: ABATACEPT
  820. ORENCIA [Suspect]
     Active Substance: ABATACEPT
     Dosage: 150 MILLIGRAM
  821. ORENCIA [Suspect]
     Active Substance: ABATACEPT
  822. ORENCIA [Suspect]
     Active Substance: ABATACEPT
     Dosage: 17.86 MILLIGRAM
  823. ORENCIA [Suspect]
     Active Substance: ABATACEPT
     Dosage: 125 MILLIGRAM
  824. ORENCIA [Suspect]
     Active Substance: ABATACEPT
     Route: 065
  825. ORENCIA [Suspect]
     Active Substance: ABATACEPT
     Dosage: 17.88 MILLIGRAM
     Route: 065
  826. ORENCIA [Suspect]
     Active Substance: ABATACEPT
  827. ORENCIA [Suspect]
     Active Substance: ABATACEPT
  828. ORENCIA [Suspect]
     Active Substance: ABATACEPT
     Dosage: 18 MILLIGRAM
     Route: 065
  829. ORENCIA [Suspect]
     Active Substance: ABATACEPT
  830. ORENCIA [Suspect]
     Active Substance: ABATACEPT
     Route: 058
  831. ORENCIA [Suspect]
     Active Substance: ABATACEPT
     Route: 042
  832. ORENCIA [Suspect]
     Active Substance: ABATACEPT
     Route: 058
  833. ORENCIA [Suspect]
     Active Substance: ABATACEPT
     Route: 017
  834. ORENCIA [Suspect]
     Active Substance: ABATACEPT
     Route: 058
  835. ORENCIA [Suspect]
     Active Substance: ABATACEPT
     Route: 058
  836. ORENCIA [Suspect]
     Active Substance: ABATACEPT
     Route: 053
  837. ORENCIA [Suspect]
     Active Substance: ABATACEPT
     Route: 042
  838. ORENCIA [Suspect]
     Active Substance: ABATACEPT
     Route: 058
  839. ORENCIA [Suspect]
     Active Substance: ABATACEPT
     Route: 065
  840. ORENCIA [Suspect]
     Active Substance: ABATACEPT
     Route: 065
  841. ORENCIA [Suspect]
     Active Substance: ABATACEPT
     Route: 058
  842. ORENCIA [Suspect]
     Active Substance: ABATACEPT
     Route: 058
  843. ORENCIA [Suspect]
     Active Substance: ABATACEPT
     Route: 065
  844. ORENCIA [Suspect]
     Active Substance: ABATACEPT
     Route: 017
  845. OXYCODONE TEREPHTHALATE [Suspect]
     Active Substance: OXYCODONE TEREPHTHALATE
     Indication: Product used for unknown indication
     Route: 065
  846. OXYCODONE TEREPHTHALATE [Suspect]
     Active Substance: OXYCODONE TEREPHTHALATE
     Route: 065
  847. OXYCODONE TEREPHTHALATE [Suspect]
     Active Substance: OXYCODONE TEREPHTHALATE
     Route: 065
  848. PHENYLEPHRINE HYDROCHLORIDE [Suspect]
     Active Substance: PHENYLEPHRINE HYDROCHLORIDE
     Indication: Rheumatoid arthritis
     Route: 065
  849. PHENYLEPHRINE HYDROCHLORIDE [Suspect]
     Active Substance: PHENYLEPHRINE HYDROCHLORIDE
     Route: 065
  850. PHENYLEPHRINE HYDROCHLORIDE [Suspect]
     Active Substance: PHENYLEPHRINE HYDROCHLORIDE
     Route: 065
  851. PHTHALYLSULFATHIAZOLE [Suspect]
     Active Substance: PHTHALYLSULFATHIAZOLE
     Indication: Rheumatoid arthritis
  852. PHTHALYLSULFATHIAZOLE [Suspect]
     Active Substance: PHTHALYLSULFATHIAZOLE
     Indication: Product used for unknown indication
  853. PHTHALYLSULFATHIAZOLE [Suspect]
     Active Substance: PHTHALYLSULFATHIAZOLE
  854. PHTHALYLSULFATHIAZOLE [Suspect]
     Active Substance: PHTHALYLSULFATHIAZOLE
  855. PHTHALYLSULFATHIAZOLE [Suspect]
     Active Substance: PHTHALYLSULFATHIAZOLE
  856. PHTHALYLSULFATHIAZOLE [Suspect]
     Active Substance: PHTHALYLSULFATHIAZOLE
  857. PHTHALYLSULFATHIAZOLE [Suspect]
     Active Substance: PHTHALYLSULFATHIAZOLE
     Dosage: 2000 MILLIGRAM, ONCE A DAY
  858. PHTHALYLSULFATHIAZOLE [Suspect]
     Active Substance: PHTHALYLSULFATHIAZOLE
     Dosage: 1000 MILLIGRAM, ONCE A DAY
  859. PHTHALYLSULFATHIAZOLE [Suspect]
     Active Substance: PHTHALYLSULFATHIAZOLE
     Route: 065
  860. PHTHALYLSULFATHIAZOLE [Suspect]
     Active Substance: PHTHALYLSULFATHIAZOLE
     Dosage: 2000 MILLIGRAM
  861. PHTHALYLSULFATHIAZOLE [Suspect]
     Active Substance: PHTHALYLSULFATHIAZOLE
     Route: 065
  862. PHTHALYLSULFATHIAZOLE [Suspect]
     Active Substance: PHTHALYLSULFATHIAZOLE
     Dosage: 1000 MILLIGRAM
  863. PHTHALYLSULFATHIAZOLE [Suspect]
     Active Substance: PHTHALYLSULFATHIAZOLE
  864. PHTHALYLSULFATHIAZOLE [Suspect]
     Active Substance: PHTHALYLSULFATHIAZOLE
  865. PHTHALYLSULFATHIAZOLE [Suspect]
     Active Substance: PHTHALYLSULFATHIAZOLE
  866. PHTHALYLSULFATHIAZOLE [Suspect]
     Active Substance: PHTHALYLSULFATHIAZOLE
  867. PHTHALYLSULFATHIAZOLE [Suspect]
     Active Substance: PHTHALYLSULFATHIAZOLE
  868. PHTHALYLSULFATHIAZOLE [Suspect]
     Active Substance: PHTHALYLSULFATHIAZOLE
  869. PHTHALYLSULFATHIAZOLE [Suspect]
     Active Substance: PHTHALYLSULFATHIAZOLE
     Dosage: 2000 MILLIGRAM, ONCE A DAY
  870. PHTHALYLSULFATHIAZOLE [Suspect]
     Active Substance: PHTHALYLSULFATHIAZOLE
     Dosage: 1000 MILLIGRAM, ONCE A DAY
  871. PHTHALYLSULFATHIAZOLE [Suspect]
     Active Substance: PHTHALYLSULFATHIAZOLE
     Route: 065
  872. PHTHALYLSULFATHIAZOLE [Suspect]
     Active Substance: PHTHALYLSULFATHIAZOLE
     Dosage: 2000 MILLIGRAM
  873. PHTHALYLSULFATHIAZOLE [Suspect]
     Active Substance: PHTHALYLSULFATHIAZOLE
     Route: 065
  874. PHTHALYLSULFATHIAZOLE [Suspect]
     Active Substance: PHTHALYLSULFATHIAZOLE
     Dosage: 1000 MILLIGRAM
  875. PHTHALYLSULFATHIAZOLE [Suspect]
     Active Substance: PHTHALYLSULFATHIAZOLE
     Route: 048
  876. PHTHALYLSULFATHIAZOLE [Suspect]
     Active Substance: PHTHALYLSULFATHIAZOLE
     Route: 067
  877. PHTHALYLSULFATHIAZOLE [Suspect]
     Active Substance: PHTHALYLSULFATHIAZOLE
     Route: 042
  878. PHTHALYLSULFATHIAZOLE [Suspect]
     Active Substance: PHTHALYLSULFATHIAZOLE
     Route: 058
  879. PHTHALYLSULFATHIAZOLE [Suspect]
     Active Substance: PHTHALYLSULFATHIAZOLE
     Route: 048
  880. PHTHALYLSULFATHIAZOLE [Suspect]
     Active Substance: PHTHALYLSULFATHIAZOLE
     Route: 016
  881. PHTHALYLSULFATHIAZOLE [Suspect]
     Active Substance: PHTHALYLSULFATHIAZOLE
     Route: 048
  882. PHTHALYLSULFATHIAZOLE [Suspect]
     Active Substance: PHTHALYLSULFATHIAZOLE
     Route: 048
  883. PHTHALYLSULFATHIAZOLE [Suspect]
     Active Substance: PHTHALYLSULFATHIAZOLE
  884. PHTHALYLSULFATHIAZOLE [Suspect]
     Active Substance: PHTHALYLSULFATHIAZOLE
     Route: 058
  885. PHTHALYLSULFATHIAZOLE [Suspect]
     Active Substance: PHTHALYLSULFATHIAZOLE
     Route: 065
  886. PHTHALYLSULFATHIAZOLE [Suspect]
     Active Substance: PHTHALYLSULFATHIAZOLE
     Route: 048
  887. RITUXIMAB [Suspect]
     Active Substance: RITUXIMAB
     Indication: Product used for unknown indication
  888. RITUXIMAB [Suspect]
     Active Substance: RITUXIMAB
     Indication: Rheumatoid arthritis
     Route: 041
  889. RITUXIMAB [Suspect]
     Active Substance: RITUXIMAB
  890. RITUXIMAB [Suspect]
     Active Substance: RITUXIMAB
  891. RITUXIMAB [Suspect]
     Active Substance: RITUXIMAB
  892. RITUXIMAB [Suspect]
     Active Substance: RITUXIMAB
     Route: 065
  893. RITUXIMAB [Suspect]
     Active Substance: RITUXIMAB
  894. RITUXIMAB [Suspect]
     Active Substance: RITUXIMAB
  895. RITUXIMAB [Suspect]
     Active Substance: RITUXIMAB
     Route: 041
  896. RITUXIMAB [Suspect]
     Active Substance: RITUXIMAB
  897. RITUXIMAB [Suspect]
     Active Substance: RITUXIMAB
  898. RITUXIMAB [Suspect]
     Active Substance: RITUXIMAB
  899. RITUXIMAB [Suspect]
     Active Substance: RITUXIMAB
     Route: 065
  900. RITUXIMAB [Suspect]
     Active Substance: RITUXIMAB
  901. RITUXIMAB [Suspect]
     Active Substance: RITUXIMAB
     Route: 042
  902. RITUXIMAB [Suspect]
     Active Substance: RITUXIMAB
     Route: 041
  903. RITUXIMAB [Suspect]
     Active Substance: RITUXIMAB
     Route: 042
  904. RITUXIMAB [Suspect]
     Active Substance: RITUXIMAB
     Route: 043
  905. RITUXIMAB [Suspect]
     Active Substance: RITUXIMAB
     Route: 058
  906. RITUXIMAB [Suspect]
     Active Substance: RITUXIMAB
     Route: 065
  907. RITUXIMAB [Suspect]
     Active Substance: RITUXIMAB
     Route: 042
  908. RITUXIMAB [Suspect]
     Active Substance: RITUXIMAB
  909. RITUXIMAB [Suspect]
     Active Substance: RITUXIMAB
     Route: 042
  910. DIETARY SUPPLEMENT\HERBALS [Suspect]
     Active Substance: DIETARY SUPPLEMENT\HERBALS
     Indication: Product used for unknown indication
     Route: 065
  911. DIETARY SUPPLEMENT\HERBALS [Suspect]
     Active Substance: DIETARY SUPPLEMENT\HERBALS
     Route: 065
  912. DIETARY SUPPLEMENT\HERBALS [Suspect]
     Active Substance: DIETARY SUPPLEMENT\HERBALS
     Route: 065
  913. DIETARY SUPPLEMENT\HERBALS [Suspect]
     Active Substance: DIETARY SUPPLEMENT\HERBALS
     Route: 065
  914. TOCILIZUMAB [Suspect]
     Active Substance: TOCILIZUMAB
     Indication: Rheumatoid arthritis
  915. TOCILIZUMAB [Suspect]
     Active Substance: TOCILIZUMAB
     Indication: Product used for unknown indication
  916. TOCILIZUMAB [Suspect]
     Active Substance: TOCILIZUMAB
  917. TOCILIZUMAB [Suspect]
     Active Substance: TOCILIZUMAB
  918. TOCILIZUMAB [Suspect]
     Active Substance: TOCILIZUMAB
  919. TOCILIZUMAB [Suspect]
     Active Substance: TOCILIZUMAB
  920. TOCILIZUMAB [Suspect]
     Active Substance: TOCILIZUMAB
  921. TOCILIZUMAB [Suspect]
     Active Substance: TOCILIZUMAB
  922. TOCILIZUMAB [Suspect]
     Active Substance: TOCILIZUMAB
     Dosage: 2912 MILLIGRAM
  923. TOCILIZUMAB [Suspect]
     Active Substance: TOCILIZUMAB
  924. TOCILIZUMAB [Suspect]
     Active Substance: TOCILIZUMAB
  925. TOCILIZUMAB [Suspect]
     Active Substance: TOCILIZUMAB
  926. TOCILIZUMAB [Suspect]
     Active Substance: TOCILIZUMAB
     Dosage: 752 MILLIGRAM
     Route: 065
  927. TOCILIZUMAB [Suspect]
     Active Substance: TOCILIZUMAB
     Route: 065
  928. TOCILIZUMAB [Suspect]
     Active Substance: TOCILIZUMAB
  929. TOCILIZUMAB [Suspect]
     Active Substance: TOCILIZUMAB
  930. TOCILIZUMAB [Suspect]
     Active Substance: TOCILIZUMAB
  931. TOCILIZUMAB [Suspect]
     Active Substance: TOCILIZUMAB
  932. TOCILIZUMAB [Suspect]
     Active Substance: TOCILIZUMAB
  933. TOCILIZUMAB [Suspect]
     Active Substance: TOCILIZUMAB
  934. TOCILIZUMAB [Suspect]
     Active Substance: TOCILIZUMAB
  935. TOCILIZUMAB [Suspect]
     Active Substance: TOCILIZUMAB
  936. TOCILIZUMAB [Suspect]
     Active Substance: TOCILIZUMAB
     Dosage: 2912 MILLIGRAM
  937. TOCILIZUMAB [Suspect]
     Active Substance: TOCILIZUMAB
  938. TOCILIZUMAB [Suspect]
     Active Substance: TOCILIZUMAB
  939. TOCILIZUMAB [Suspect]
     Active Substance: TOCILIZUMAB
  940. TOCILIZUMAB [Suspect]
     Active Substance: TOCILIZUMAB
     Dosage: 752 MILLIGRAM
     Route: 065
  941. TOCILIZUMAB [Suspect]
     Active Substance: TOCILIZUMAB
     Route: 065
  942. TOCILIZUMAB [Suspect]
     Active Substance: TOCILIZUMAB
     Route: 058
  943. TOCILIZUMAB [Suspect]
     Active Substance: TOCILIZUMAB
     Route: 042
  944. TOCILIZUMAB [Suspect]
     Active Substance: TOCILIZUMAB
     Route: 016
  945. TOCILIZUMAB [Suspect]
     Active Substance: TOCILIZUMAB
     Route: 058
  946. TOCILIZUMAB [Suspect]
     Active Substance: TOCILIZUMAB
     Route: 058
  947. TOCILIZUMAB [Suspect]
     Active Substance: TOCILIZUMAB
     Route: 058
  948. TOCILIZUMAB [Suspect]
     Active Substance: TOCILIZUMAB
     Route: 042
  949. TOCILIZUMAB [Suspect]
     Active Substance: TOCILIZUMAB
     Route: 042
  950. TOCILIZUMAB [Suspect]
     Active Substance: TOCILIZUMAB
     Route: 042
  951. TOCILIZUMAB [Suspect]
     Active Substance: TOCILIZUMAB
     Route: 042
  952. TOCILIZUMAB [Suspect]
     Active Substance: TOCILIZUMAB
     Route: 042
  953. TOCILIZUMAB [Suspect]
     Active Substance: TOCILIZUMAB
     Route: 058
  954. TOCILIZUMAB [Suspect]
     Active Substance: TOCILIZUMAB
     Route: 065
  955. TOCILIZUMAB [Suspect]
     Active Substance: TOCILIZUMAB
     Route: 065
  956. TOFACITINIB [Suspect]
     Active Substance: TOFACITINIB
     Indication: Rheumatoid arthritis
     Route: 065
  957. TOFACITINIB [Suspect]
     Active Substance: TOFACITINIB
     Indication: Product used for unknown indication
     Dosage: 5 MILLIGRAM
     Route: 065
  958. TOFACITINIB [Suspect]
     Active Substance: TOFACITINIB
     Route: 065
  959. TOFACITINIB [Suspect]
     Active Substance: TOFACITINIB
     Dosage: 5 MILLIGRAM
     Route: 065
  960. TOFACITINIB [Suspect]
     Active Substance: TOFACITINIB
     Route: 065
  961. TOFACITINIB [Suspect]
     Active Substance: TOFACITINIB
     Route: 065
  962. VITAMIN C [Suspect]
     Active Substance: ASCORBIC ACID
     Indication: Product used for unknown indication
     Route: 065
  963. VITAMIN C [Suspect]
     Active Substance: ASCORBIC ACID
     Route: 065
  964. VITAMIN C [Suspect]
     Active Substance: ASCORBIC ACID
     Route: 065
  965. VITAMIN C [Suspect]
     Active Substance: ASCORBIC ACID
     Route: 065
  966. VITAMIN C [Suspect]
     Active Substance: ASCORBIC ACID
     Route: 065
  967. VITAMIN C [Suspect]
     Active Substance: ASCORBIC ACID
     Route: 065
  968. XELJANZ [Suspect]
     Active Substance: TOFACITINIB CITRATE
     Indication: Rheumatoid arthritis
     Dosage: 5 MILLIGRAM
     Route: 065
  969. XELJANZ [Suspect]
     Active Substance: TOFACITINIB CITRATE
     Indication: Product used for unknown indication
     Dosage: 10 MILLIGRAM
     Route: 065
  970. XELJANZ [Suspect]
     Active Substance: TOFACITINIB CITRATE
     Dosage: 5 MILLIGRAM
     Route: 065
  971. XELJANZ [Suspect]
     Active Substance: TOFACITINIB CITRATE
     Dosage: 5 MILLIGRAM
     Route: 065
  972. XELJANZ [Suspect]
     Active Substance: TOFACITINIB CITRATE
     Route: 065
  973. XELJANZ [Suspect]
     Active Substance: TOFACITINIB CITRATE
     Dosage: 5 MILLIGRAM
     Route: 065
  974. XELJANZ [Suspect]
     Active Substance: TOFACITINIB CITRATE
     Dosage: 10 MILLIGRAM
     Route: 065
  975. XELJANZ [Suspect]
     Active Substance: TOFACITINIB CITRATE
     Dosage: 5 MILLIGRAM
     Route: 065
  976. XELJANZ [Suspect]
     Active Substance: TOFACITINIB CITRATE
     Dosage: 5 MILLIGRAM
     Route: 065
  977. XELJANZ [Suspect]
     Active Substance: TOFACITINIB CITRATE
     Route: 065
  978. XELJANZ [Suspect]
     Active Substance: TOFACITINIB CITRATE
     Route: 065
  979. XELJANZ [Suspect]
     Active Substance: TOFACITINIB CITRATE
     Route: 065
  980. XELJANZ [Suspect]
     Active Substance: TOFACITINIB CITRATE
     Route: 065
  981. XELJANZ [Suspect]
     Active Substance: TOFACITINIB CITRATE
     Route: 065
  982. XELJANZ [Suspect]
     Active Substance: TOFACITINIB CITRATE
     Route: 065
  983. PREDNISONE [Suspect]
     Active Substance: PREDNISONE
     Indication: Rheumatoid arthritis
     Route: 065
  984. PREDNISONE [Suspect]
     Active Substance: PREDNISONE
     Indication: Product used for unknown indication
     Route: 065
  985. PREDNISONE [Suspect]
     Active Substance: PREDNISONE
     Route: 065
  986. PREDNISONE [Suspect]
     Active Substance: PREDNISONE
  987. PREDNISONE [Suspect]
     Active Substance: PREDNISONE
     Route: 065
  988. PREDNISONE [Suspect]
     Active Substance: PREDNISONE
     Route: 065
  989. PREDNISONE [Suspect]
     Active Substance: PREDNISONE
     Route: 065
  990. PREDNISONE [Suspect]
     Active Substance: PREDNISONE
     Route: 065
  991. PREDNISONE [Suspect]
     Active Substance: PREDNISONE
  992. PREDNISONE [Suspect]
     Active Substance: PREDNISONE
     Route: 065
  993. PREDNISONE [Suspect]
     Active Substance: PREDNISONE
     Route: 065
  994. CALCIUM CARBONATE [Suspect]
     Active Substance: CALCIUM CARBONATE
     Indication: Product used for unknown indication
     Route: 065
  995. CALCIUM CARBONATE [Suspect]
     Active Substance: CALCIUM CARBONATE
  996. CALCIUM CARBONATE [Suspect]
     Active Substance: CALCIUM CARBONATE
     Route: 065
  997. CALCIUM CARBONATE [Suspect]
     Active Substance: CALCIUM CARBONATE
  998. CALCIUM CARBONATE [Suspect]
     Active Substance: CALCIUM CARBONATE
     Route: 065
  999. CALCIUM CARBONATE [Suspect]
     Active Substance: CALCIUM CARBONATE
     Route: 016
  1000. CALCIUM GLUCONATE\CALCIUM LACTATE [Suspect]
     Active Substance: CALCIUM GLUCONATE\CALCIUM LACTATE
     Indication: Product used for unknown indication
     Route: 065
  1001. CALCIUM GLUCONATE\CALCIUM LACTATE [Suspect]
     Active Substance: CALCIUM GLUCONATE\CALCIUM LACTATE
     Route: 065
  1002. CALCIUM GLUCONATE\CALCIUM LACTATE [Suspect]
     Active Substance: CALCIUM GLUCONATE\CALCIUM LACTATE
     Route: 065
  1003. CALCIUM LACTATE [Suspect]
     Active Substance: CALCIUM LACTATE
     Indication: Product used for unknown indication
     Route: 065
  1004. CALCIUM LACTATE [Suspect]
     Active Substance: CALCIUM LACTATE
     Route: 065
  1005. CALCIUM LACTATE [Suspect]
     Active Substance: CALCIUM LACTATE
     Route: 065
  1006. FOSAMAX [Suspect]
     Active Substance: ALENDRONATE SODIUM
     Indication: Rheumatoid arthritis
  1007. FOSAMAX [Suspect]
     Active Substance: ALENDRONATE SODIUM
     Indication: Product used for unknown indication
  1008. FOSAMAX [Suspect]
     Active Substance: ALENDRONATE SODIUM
  1009. FOSAMAX [Suspect]
     Active Substance: ALENDRONATE SODIUM
  1010. FOSAMAX [Suspect]
     Active Substance: ALENDRONATE SODIUM
  1011. FOSAMAX [Suspect]
     Active Substance: ALENDRONATE SODIUM
  1012. FOSAMAX [Suspect]
     Active Substance: ALENDRONATE SODIUM
  1013. FOSAMAX [Suspect]
     Active Substance: ALENDRONATE SODIUM
  1014. FOSAMAX [Suspect]
     Active Substance: ALENDRONATE SODIUM
  1015. FOSAMAX [Suspect]
     Active Substance: ALENDRONATE SODIUM
  1016. FOSAMAX [Suspect]
     Active Substance: ALENDRONATE SODIUM
     Route: 048
  1017. FOSAMAX [Suspect]
     Active Substance: ALENDRONATE SODIUM
     Route: 058
  1018. FOSAMAX [Suspect]
     Active Substance: ALENDRONATE SODIUM
     Route: 016
  1019. FOSAMAX [Suspect]
     Active Substance: ALENDRONATE SODIUM
     Route: 048
  1020. FOSAMAX [Suspect]
     Active Substance: ALENDRONATE SODIUM
     Route: 058
  1021. TOFACITINIB CITRATE [Suspect]
     Active Substance: TOFACITINIB CITRATE
     Indication: Product used for unknown indication
     Dosage: 5 MILLIGRAM
     Route: 065
  1022. TOFACITINIB CITRATE [Suspect]
     Active Substance: TOFACITINIB CITRATE
     Indication: Rheumatoid arthritis
     Dosage: 5 MILLIGRAM
     Route: 065
  1023. TOFACITINIB CITRATE [Suspect]
     Active Substance: TOFACITINIB CITRATE
     Route: 065
  1024. TOFACITINIB CITRATE [Suspect]
     Active Substance: TOFACITINIB CITRATE
     Dosage: 10 MILLIGRAM
     Route: 065
  1025. TOFACITINIB CITRATE [Suspect]
     Active Substance: TOFACITINIB CITRATE
     Dosage: 5 MILLIGRAM
     Route: 065
  1026. TOFACITINIB CITRATE [Suspect]
     Active Substance: TOFACITINIB CITRATE
     Dosage: 5 MILLIGRAM
     Route: 065
  1027. TOFACITINIB CITRATE [Suspect]
     Active Substance: TOFACITINIB CITRATE
     Route: 065
  1028. TOFACITINIB CITRATE [Suspect]
     Active Substance: TOFACITINIB CITRATE
     Dosage: 10 MILLIGRAM
     Route: 065
  1029. TOFACITINIB CITRATE [Suspect]
     Active Substance: TOFACITINIB CITRATE
     Route: 065
  1030. TOFACITINIB CITRATE [Suspect]
     Active Substance: TOFACITINIB CITRATE
     Route: 065
  1031. TOFACITINIB CITRATE [Suspect]
     Active Substance: TOFACITINIB CITRATE
     Route: 065
  1032. TOFACITINIB CITRATE [Suspect]
     Active Substance: TOFACITINIB CITRATE
     Route: 065
  1033. BERINERT [Suspect]
     Active Substance: HUMAN C1-ESTERASE INHIBITOR
     Indication: Product used for unknown indication
     Route: 065
  1034. BERINERT [Suspect]
     Active Substance: HUMAN C1-ESTERASE INHIBITOR
     Route: 065
  1035. BERINERT [Suspect]
     Active Substance: HUMAN C1-ESTERASE INHIBITOR
     Route: 065
  1036. CETIRIZINE [Suspect]
     Active Substance: CETIRIZINE HYDROCHLORIDE
     Indication: Rheumatoid arthritis
  1037. CETIRIZINE [Suspect]
     Active Substance: CETIRIZINE HYDROCHLORIDE
     Indication: Product used for unknown indication
  1038. CETIRIZINE [Suspect]
     Active Substance: CETIRIZINE HYDROCHLORIDE
     Indication: Off label use
  1039. CETIRIZINE [Suspect]
     Active Substance: CETIRIZINE HYDROCHLORIDE
  1040. CETIRIZINE [Suspect]
     Active Substance: CETIRIZINE HYDROCHLORIDE
  1041. CETIRIZINE [Suspect]
     Active Substance: CETIRIZINE HYDROCHLORIDE
  1042. CETIRIZINE [Suspect]
     Active Substance: CETIRIZINE HYDROCHLORIDE
     Route: 048
  1043. CETIRIZINE [Suspect]
     Active Substance: CETIRIZINE HYDROCHLORIDE
     Route: 048
  1044. CETIRIZINE [Suspect]
     Active Substance: CETIRIZINE HYDROCHLORIDE
     Route: 048
  1045. CETIRIZINE [Suspect]
     Active Substance: CETIRIZINE HYDROCHLORIDE
     Route: 065
  1046. CETIRIZINE [Suspect]
     Active Substance: CETIRIZINE HYDROCHLORIDE
  1047. CHLORHEXIDINE GLUCONATE\ISOPROPYL ALCOHOL [Suspect]
     Active Substance: CHLORHEXIDINE GLUCONATE\ISOPROPYL ALCOHOL
     Indication: Product used for unknown indication
     Route: 061
  1048. CHLORHEXIDINE GLUCONATE\ISOPROPYL ALCOHOL [Suspect]
     Active Substance: CHLORHEXIDINE GLUCONATE\ISOPROPYL ALCOHOL
     Route: 061
  1049. CHLORHEXIDINE GLUCONATE\ISOPROPYL ALCOHOL [Suspect]
     Active Substance: CHLORHEXIDINE GLUCONATE\ISOPROPYL ALCOHOL
     Route: 061
  1050. MEGLUMINE [Suspect]
     Active Substance: MEGLUMINE
     Indication: Product used for unknown indication
  1051. MEGLUMINE [Suspect]
     Active Substance: MEGLUMINE
  1052. MEGLUMINE [Suspect]
     Active Substance: MEGLUMINE
     Route: 042
  1053. ATOMOXETINE [Suspect]
     Active Substance: ATOMOXETINE
     Indication: Migraine
     Route: 065
  1054. ATOMOXETINE [Suspect]
     Active Substance: ATOMOXETINE
     Route: 065
  1055. ATOMOXETINE [Suspect]
     Active Substance: ATOMOXETINE
     Route: 065
  1056. TRIAMCINOLONE ACETONIDE [Suspect]
     Active Substance: TRIAMCINOLONE ACETONIDE
     Indication: Rheumatoid arthritis
  1057. TRIAMCINOLONE ACETONIDE [Suspect]
     Active Substance: TRIAMCINOLONE ACETONIDE
  1058. TRIAMCINOLONE ACETONIDE [Suspect]
     Active Substance: TRIAMCINOLONE ACETONIDE
     Route: 014
  1059. TRIAMCINOLONE ACETONIDE [Suspect]
     Active Substance: TRIAMCINOLONE ACETONIDE
     Route: 065
  1060. ACETAMINOPHEN AND CODEINE [Suspect]
     Active Substance: ACETAMINOPHEN\CODEINE PHOSPHATE
     Indication: Product used for unknown indication
     Route: 065
  1061. PREDNISONE [Suspect]
     Active Substance: PREDNISONE
     Indication: Rheumatoid arthritis
     Route: 065
  1062. PREDNISONE [Suspect]
     Active Substance: PREDNISONE
     Indication: Product used for unknown indication
     Route: 065
  1063. PREDNISONE [Suspect]
     Active Substance: PREDNISONE
     Route: 065
  1064. PREDNISONE [Suspect]
     Active Substance: PREDNISONE
     Route: 048
  1065. PREDNISONE [Suspect]
     Active Substance: PREDNISONE
     Route: 065
  1066. ACETAMINOPHEN [Concomitant]
     Active Substance: ACETAMINOPHEN
     Indication: Product used for unknown indication
     Route: 065
  1067. ACETAMINOPHEN [Concomitant]
     Active Substance: ACETAMINOPHEN
     Route: 065
  1068. ACETAMINOPHEN [Concomitant]
     Active Substance: ACETAMINOPHEN
     Route: 065
  1069. ATIVAN [Concomitant]
     Active Substance: LORAZEPAM
     Indication: Anxiety
     Route: 065
  1070. ATIVAN [Concomitant]
     Active Substance: LORAZEPAM
     Route: 065
  1071. ATIVAN [Concomitant]
     Active Substance: LORAZEPAM
     Route: 065
  1072. CALCIUM [Concomitant]
     Active Substance: CALCIUM
     Indication: Product used for unknown indication
     Route: 065
  1073. CALCIUM [Concomitant]
     Active Substance: CALCIUM
     Route: 065
  1074. CALCIUM [Concomitant]
     Active Substance: CALCIUM
  1075. CALCIUM GLUBIONATE [Concomitant]
     Active Substance: CALCIUM GLUBIONATE
     Indication: Product used for unknown indication
     Route: 065
  1076. CALCIUM GLUBIONATE [Concomitant]
     Active Substance: CALCIUM GLUBIONATE
     Route: 065
  1077. CALCIUM GLUBIONATE [Concomitant]
     Active Substance: CALCIUM GLUBIONATE
     Route: 065
  1078. CHOLECALCIFEROL [Concomitant]
     Active Substance: CHOLECALCIFEROL
     Indication: Product used for unknown indication
     Route: 065
  1079. CHOLECALCIFEROL [Concomitant]
     Active Substance: CHOLECALCIFEROL
     Route: 065
  1080. CHOLECALCIFEROL [Concomitant]
     Active Substance: CHOLECALCIFEROL
     Route: 065
  1081. ERGOCALCIFEROL [Concomitant]
     Active Substance: ERGOCALCIFEROL
     Indication: Product used for unknown indication
     Route: 065
  1082. ERGOCALCIFEROL [Concomitant]
     Active Substance: ERGOCALCIFEROL
     Route: 065
  1083. ERGOCALCIFEROL [Concomitant]
     Active Substance: ERGOCALCIFEROL
     Route: 065
  1084. GLUCOSAMINE [Concomitant]
     Active Substance: GLUCOSAMINE
     Indication: Product used for unknown indication
     Route: 065
  1085. GLUCOSAMINE [Concomitant]
     Active Substance: GLUCOSAMINE
     Route: 065
  1086. GLUCOSAMINE [Concomitant]
     Active Substance: GLUCOSAMINE
     Route: 065
  1087. IBUPROFEN [Concomitant]
     Active Substance: IBUPROFEN
     Indication: Product used for unknown indication
     Route: 065
  1088. IBUPROFEN [Concomitant]
     Active Substance: IBUPROFEN
     Route: 065
  1089. IBUPROFEN [Concomitant]
     Active Substance: IBUPROFEN
     Route: 065
  1090. LANSOPRAZOLE [Concomitant]
     Active Substance: LANSOPRAZOLE
     Indication: Product used for unknown indication
     Route: 065
  1091. LANSOPRAZOLE [Concomitant]
     Active Substance: LANSOPRAZOLE
     Route: 065
  1092. LANSOPRAZOLE [Concomitant]
     Active Substance: LANSOPRAZOLE
  1093. LORAZEPAM [Concomitant]
     Active Substance: LORAZEPAM
     Indication: Product used for unknown indication
     Route: 065
  1094. LORAZEPAM [Concomitant]
     Active Substance: LORAZEPAM
     Route: 065
  1095. LORAZEPAM [Concomitant]
     Active Substance: LORAZEPAM
     Route: 065
  1096. MAGNESIUM [Concomitant]
     Active Substance: MAGNESIUM
     Indication: Product used for unknown indication
     Route: 065
  1097. MAGNESIUM [Concomitant]
     Active Substance: MAGNESIUM
     Route: 065
  1098. MAGNESIUM [Concomitant]
     Active Substance: MAGNESIUM
  1099. PANTOPRAZOLE [Concomitant]
     Active Substance: PANTOPRAZOLE
     Indication: Product used for unknown indication
     Route: 065
  1100. PANTOPRAZOLE [Concomitant]
     Active Substance: PANTOPRAZOLE
     Route: 065
  1101. PANTOPRAZOLE [Concomitant]
     Active Substance: PANTOPRAZOLE
  1102. PREDNISOLONE [Concomitant]
     Active Substance: PREDNISOLONE
     Indication: Product used for unknown indication
     Route: 065
  1103. PREDNISOLONE [Concomitant]
     Active Substance: PREDNISOLONE
     Route: 065
  1104. PREDNISOLONE [Concomitant]
     Active Substance: PREDNISOLONE
     Route: 065
  1105. PRINIVIL [Concomitant]
     Active Substance: LISINOPRIL
     Indication: Product used for unknown indication
     Route: 065
  1106. PRINIVIL [Concomitant]
     Active Substance: LISINOPRIL
     Route: 065
  1107. PRINIVIL [Concomitant]
     Active Substance: LISINOPRIL
     Route: 065
  1108. PRINIVIL [Concomitant]
     Active Substance: LISINOPRIL
     Route: 065
  1109. QUETIAPINE [Concomitant]
     Active Substance: QUETIAPINE
     Indication: Product used for unknown indication
     Route: 065
  1110. QUETIAPINE [Concomitant]
     Active Substance: QUETIAPINE
     Route: 065
  1111. QUETIAPINE [Concomitant]
     Active Substance: QUETIAPINE
     Route: 065
  1112. QUETIAPINE FUMARATE [Concomitant]
     Active Substance: QUETIAPINE FUMARATE
     Indication: Product used for unknown indication
     Route: 065
  1113. QUETIAPINE FUMARATE [Concomitant]
     Active Substance: QUETIAPINE FUMARATE
     Route: 065
  1114. QUETIAPINE FUMARATE [Concomitant]
     Active Substance: QUETIAPINE FUMARATE
     Route: 065
  1115. QUETIAPINE FUMARATE [Concomitant]
     Active Substance: QUETIAPINE FUMARATE
     Route: 065
  1116. RAMIPRIL [Concomitant]
     Active Substance: RAMIPRIL
     Indication: Product used for unknown indication
  1117. RAMIPRIL [Concomitant]
     Active Substance: RAMIPRIL
  1118. RAMIPRIL [Concomitant]
     Active Substance: RAMIPRIL
  1119. RAMIPRIL [Concomitant]
     Active Substance: RAMIPRIL
  1120. RAMIPRIL [Concomitant]
     Active Substance: RAMIPRIL
     Route: 042
  1121. RAMIPRIL [Concomitant]
     Active Substance: RAMIPRIL
     Route: 016
  1122. RISEDRONATE SODIUM [Concomitant]
     Active Substance: RISEDRONATE SODIUM
     Indication: Product used for unknown indication
     Dosage: 1 DOSAGE FORM
     Route: 065
  1123. RISEDRONATE SODIUM [Concomitant]
     Active Substance: RISEDRONATE SODIUM
     Dosage: 1 DOSAGE FORM
     Route: 065
  1124. RISEDRONATE SODIUM [Concomitant]
     Active Substance: RISEDRONATE SODIUM
  1125. RISEDRONATE SODIUM [Concomitant]
     Active Substance: RISEDRONATE SODIUM
     Route: 065
  1126. SULFASALAZINE [Concomitant]
     Active Substance: SULFASALAZINE
     Indication: Product used for unknown indication
     Route: 065
  1127. SULFASALAZINE [Concomitant]
     Active Substance: SULFASALAZINE
     Route: 065
  1128. FISH OIL [Concomitant]
     Active Substance: FISH OIL
     Indication: Product used for unknown indication
     Route: 065
  1129. FISH OIL [Concomitant]
     Active Substance: FISH OIL
     Route: 065
  1130. FISH OIL [Concomitant]
     Active Substance: FISH OIL
     Route: 065
  1131. TOFACITINIB [Concomitant]
     Active Substance: TOFACITINIB
     Indication: Product used for unknown indication
     Route: 065
  1132. TOFACITINIB [Concomitant]
     Active Substance: TOFACITINIB
     Route: 065
  1133. TOFACITINIB [Concomitant]
     Active Substance: TOFACITINIB
     Route: 065
  1134. VITAMIN B12 [Concomitant]
     Active Substance: CYANOCOBALAMIN
     Indication: Product used for unknown indication
     Route: 065
  1135. VITAMIN B12 [Concomitant]
     Active Substance: CYANOCOBALAMIN
     Route: 065
  1136. VITAMIN B12 [Concomitant]
     Active Substance: CYANOCOBALAMIN
     Route: 065
  1137. VITAMIN D3 [Concomitant]
     Active Substance: CHOLECALCIFEROL
     Indication: Product used for unknown indication
     Route: 065
  1138. VITAMIN D3 [Concomitant]
     Active Substance: CHOLECALCIFEROL
     Route: 065
  1139. VITAMIN D3 [Concomitant]
     Active Substance: CHOLECALCIFEROL
     Route: 065

REACTIONS (128)
  - Breast cancer stage III [Fatal]
  - Duodenal ulcer perforation [Fatal]
  - Epilepsy [Fatal]
  - Abdominal discomfort [Fatal]
  - Abdominal pain upper [Fatal]
  - Alopecia [Fatal]
  - Anti-cyclic citrullinated peptide antibody positive [Fatal]
  - Arthralgia [Fatal]
  - Arthropathy [Fatal]
  - Asthenia [Fatal]
  - Blepharospasm [Fatal]
  - Blister [Fatal]
  - Blood cholesterol increased [Fatal]
  - Bursitis [Fatal]
  - C-reactive protein increased [Fatal]
  - Confusional state [Fatal]
  - Depression [Fatal]
  - Diarrhoea [Fatal]
  - Dizziness [Fatal]
  - Drug intolerance [Fatal]
  - Dry mouth [Fatal]
  - Facet joint syndrome [Fatal]
  - Fibromyalgia [Fatal]
  - Folliculitis [Fatal]
  - Gastrooesophageal reflux disease [Fatal]
  - General physical health deterioration [Fatal]
  - Glossodynia [Fatal]
  - Hand deformity [Fatal]
  - Helicobacter infection [Fatal]
  - Hypercholesterolaemia [Fatal]
  - Hypertension [Fatal]
  - Hypoaesthesia [Fatal]
  - Impaired healing [Fatal]
  - Inflammation [Fatal]
  - Infusion related reaction [Fatal]
  - Intentional product use issue [Fatal]
  - Irritable bowel syndrome [Fatal]
  - Joint range of motion decreased [Fatal]
  - Joint swelling [Fatal]
  - Lip dry [Fatal]
  - Live birth [Fatal]
  - Lower respiratory tract infection [Fatal]
  - Lung disorder [Fatal]
  - Maternal exposure during pregnancy [Fatal]
  - Memory impairment [Fatal]
  - Migraine [Fatal]
  - Liver injury [Fatal]
  - Hepatic enzyme increased [Fatal]
  - Drug ineffective [Fatal]
  - Muscle injury [Fatal]
  - Muscle spasms [Fatal]
  - Musculoskeletal pain [Fatal]
  - Nail disorder [Fatal]
  - Nasopharyngitis [Fatal]
  - Night sweats [Fatal]
  - No adverse event [Fatal]
  - Obesity [Fatal]
  - Osteoarthritis [Fatal]
  - Pain [Fatal]
  - Paraesthesia [Fatal]
  - Pemphigus [Fatal]
  - Pericarditis [Fatal]
  - Peripheral swelling [Fatal]
  - Peripheral venous disease [Fatal]
  - Product quality issue [Fatal]
  - Product use in unapproved indication [Fatal]
  - Psoriatic arthropathy [Fatal]
  - Rash [Fatal]
  - Rheumatoid arthritis [Fatal]
  - Stomatitis [Fatal]
  - Swelling [Fatal]
  - Synovitis [Fatal]
  - Systemic lupus erythematosus [Fatal]
  - Taste disorder [Fatal]
  - Type 2 diabetes mellitus [Fatal]
  - Urticaria [Fatal]
  - Vomiting [Fatal]
  - Weight increased [Fatal]
  - Wheezing [Fatal]
  - Wound [Fatal]
  - Wound infection [Fatal]
  - Condition aggravated [Fatal]
  - Discomfort [Fatal]
  - Fatigue [Fatal]
  - Off label use [Fatal]
  - Back injury [Fatal]
  - Contraindicated product administered [Fatal]
  - Drug hypersensitivity [Fatal]
  - Gait inability [Fatal]
  - Infusion site reaction [Fatal]
  - Liver function test increased [Fatal]
  - Muscular weakness [Fatal]
  - Neck pain [Fatal]
  - Onychomadesis [Fatal]
  - Pneumonia [Fatal]
  - Sleep disorder [Fatal]
  - Therapeutic product effect decreased [Fatal]
  - Treatment failure [Fatal]
  - Overlap syndrome [Fatal]
  - Asthma [Fatal]
  - Autoimmune disorder [Fatal]
  - Chest pain [Fatal]
  - Contusion [Fatal]
  - Deep vein thrombosis postoperative [Fatal]
  - Abdominal pain [Not Recovered/Not Resolved]
  - Adverse event [Not Recovered/Not Resolved]
  - Exposure during pregnancy [Not Recovered/Not Resolved]
  - Adverse drug reaction [Not Recovered/Not Resolved]
  - Adjustment disorder with depressed mood [Unknown]
  - Amnesia [Unknown]
  - Anxiety [Unknown]
  - C-reactive protein abnormal [Unknown]
  - Medication error [Unknown]
  - Feeling hot [Fatal]
  - Gait disturbance [Fatal]
  - Frequent bowel movements [Fatal]
  - Intentional product misuse [Fatal]
  - Laboratory test abnormal [Fatal]
  - Oedema peripheral [Fatal]
  - Pain in extremity [Fatal]
  - Pancreatitis [Fatal]
  - Porphyria acute [Fatal]
  - Rectal haemorrhage [Fatal]
  - Road traffic accident [Fatal]
  - Sciatica [Fatal]
  - Therapy non-responder [Fatal]
  - Underdose [Fatal]
  - White blood cell count increased [Fatal]
